FAERS Safety Report 23538816 (Version 7)
Quarter: 2024Q4

REPORT INFORMATION
  Report Type: Spontaneous
  Country: CA (occurrence: CA)
  Receive Date: 20240219
  Receipt Date: 20241220
  Transmission Date: 20250114
  Serious: Yes (Life-Threatening, Hospitalization, Other)
  Sender: MYLAN
  Company Number: CA-MYLANLABS-2024M1012872

PATIENT
  Age: 77 Year
  Sex: Female

DRUGS (543)
  1. LEVOTHYROXINE [Interacting]
     Active Substance: LEVOTHYROXINE
     Indication: Urinary tract infection
     Dosage: 88 NANOGRAM, QD (1 EVERY 1 DAYS)
     Route: 065
  2. LEVOTHYROXINE [Interacting]
     Active Substance: LEVOTHYROXINE
     Indication: Thyroid disorder
     Dosage: UNK
     Route: 048
  3. LEVOTHYROXINE [Interacting]
     Active Substance: LEVOTHYROXINE
     Indication: Radioactive iodine therapy
     Dosage: 1 DOSAGE FORM, QD (1 EVERY 1 DAYS)
     Route: 065
  4. LEVOTHYROXINE [Interacting]
     Active Substance: LEVOTHYROXINE
     Indication: Constipation
     Dosage: 0.09 MILLIGRAM, QD (1 EVERY 1 DAYS)
     Route: 048
  5. LEVOTHYROXINE [Interacting]
     Active Substance: LEVOTHYROXINE
     Dosage: 0.09 MILLIGRAM, QD (1 EVERY 1 DAYS)
     Route: 065
  6. LEVOTHYROXINE [Interacting]
     Active Substance: LEVOTHYROXINE
     Dosage: 1244 MILLIGRAM, QD (1 EVERY 1 DAYS)
     Route: 065
  7. LEVOTHYROXINE [Interacting]
     Active Substance: LEVOTHYROXINE
     Dosage: 0.89 MILLIGRAM, QD (1 EVERY 1 DAYS)
     Route: 065
  8. LEVOTHYROXINE [Interacting]
     Active Substance: LEVOTHYROXINE
     Dosage: 0.89 MILLIGRAM
     Route: 065
  9. LEVOTHYROXINE [Interacting]
     Active Substance: LEVOTHYROXINE
     Dosage: 0.88 MILLIGRAM, QD (1 EVERY 1 DAYS)
     Route: 065
  10. LEVOTHYROXINE [Interacting]
     Active Substance: LEVOTHYROXINE
     Dosage: 250 MILLIGRAM, QD (1 EVERY 1 DAYS)
     Route: 065
  11. LEVOTHYROXINE [Interacting]
     Active Substance: LEVOTHYROXINE
     Dosage: 250 MILLIGRAM
     Route: 065
  12. LEVOTHYROXINE [Interacting]
     Active Substance: LEVOTHYROXINE
     Dosage: 0.08 MILLIGRAM, QD
     Route: 065
  13. LEVOTHYROXINE [Interacting]
     Active Substance: LEVOTHYROXINE
     Dosage: 0.088 MILLIGRAM, QD (1 EVERY 1 DAYS)
     Route: 065
  14. LEVOTHYROXINE [Interacting]
     Active Substance: LEVOTHYROXINE
     Dosage: UNK
     Route: 065
  15. LEVOTHYROXINE [Interacting]
     Active Substance: LEVOTHYROXINE
     Dosage: 88 MILLIGRAM, QD
     Route: 065
  16. MORPHINE [Interacting]
     Active Substance: MORPHINE
     Indication: Fibromyalgia
     Dosage: UNK
     Route: 065
  17. MORPHINE [Interacting]
     Active Substance: MORPHINE
     Indication: Dyspnoea
     Dosage: 10 MILLIGRAM, QD
     Route: 065
  18. NITROGLYCERIN [Interacting]
     Active Substance: NITROGLYCERIN
     Indication: Hypertension
     Dosage: UNK
     Route: 065
  19. NITROGLYCERIN [Interacting]
     Active Substance: NITROGLYCERIN
     Indication: Coronary artery disease
     Dosage: 0.4 MILLIGRAM
     Route: 065
  20. NITROGLYCERIN [Interacting]
     Active Substance: NITROGLYCERIN
     Indication: Chest pain
     Dosage: 0.6 MILLIGRAM, QD (1 EVERY 1 DAYS)
     Route: 065
  21. NITROGLYCERIN [Interacting]
     Active Substance: NITROGLYCERIN
     Indication: Angina pectoris
     Dosage: 1 DOSAGE FORM, QD (1 EVERY 1 DAYS)
     Route: 065
  22. NITROGLYCERIN [Interacting]
     Active Substance: NITROGLYCERIN
     Dosage: 0.6 MILLIGRAM
     Route: 065
  23. NITROGLYCERIN [Interacting]
     Active Substance: NITROGLYCERIN
     Dosage: 0.1 DOSAGE FORM, QD (1 EVERY 1 DAYS)
     Route: 065
  24. NITROGLYCERIN [Interacting]
     Active Substance: NITROGLYCERIN
     Indication: Coronary artery disease
     Dosage: UNK
     Route: 065
  25. NITROGLYCERIN [Interacting]
     Active Substance: NITROGLYCERIN
     Indication: Angina pectoris
     Dosage: 0.4 MILLIGRAM
     Route: 065
  26. AMLODIPINE [Interacting]
     Active Substance: AMLODIPINE BESYLATE
     Indication: Hypertension
     Dosage: UNK
     Route: 065
  27. AMLODIPINE [Interacting]
     Active Substance: AMLODIPINE BESYLATE
     Indication: Coronary artery disease
     Dosage: 50 MILLIGRAM, QD (1 EVERY 1 DAYS)
     Route: 065
  28. AMLODIPINE [Interacting]
     Active Substance: AMLODIPINE BESYLATE
     Indication: Constipation
     Dosage: 5 MILLIGRAM, QD (1 EVERY 1 DAYS)
     Route: 065
  29. AMLODIPINE [Interacting]
     Active Substance: AMLODIPINE BESYLATE
     Indication: Chest pain
     Dosage: 5 MILLIGRAM
     Route: 065
  30. AMLODIPINE [Interacting]
     Active Substance: AMLODIPINE BESYLATE
     Indication: Angina pectoris
  31. AMLODIPINE [Interacting]
     Active Substance: AMLODIPINE BESYLATE
     Indication: Hypertension
     Dosage: 5 MILLIGRAM, QD (1 EVERY 1 DAYS)
     Route: 065
  32. AMLODIPINE [Interacting]
     Active Substance: AMLODIPINE BESYLATE
     Indication: Coronary artery disease
  33. CALCIUM [Interacting]
     Active Substance: CALCIUM
     Indication: Product used for unknown indication
     Dosage: UNK
     Route: 065
  34. ACETAMINOPHEN [Interacting]
     Active Substance: ACETAMINOPHEN
     Indication: Fibromyalgia
     Dosage: UNK
     Route: 065
  35. ACETAMINOPHEN [Interacting]
     Active Substance: ACETAMINOPHEN
     Indication: Radioactive iodine therapy
     Dosage: 650 MILLIGRAM
     Route: 065
  36. ACETAMINOPHEN [Interacting]
     Active Substance: ACETAMINOPHEN
     Indication: Pain
     Dosage: 650 MILLIGRAM, QD (1 EVERY 1 DAYS)
     Route: 065
  37. ACETAMINOPHEN [Interacting]
     Active Substance: ACETAMINOPHEN
     Indication: Angina pectoris
     Dosage: 650 MILLIGRAM,QID(1 EVERY 6 HOURS)
     Route: 065
  38. ACETAMINOPHEN [Interacting]
     Active Substance: ACETAMINOPHEN
     Dosage: 600 MILLIGRAM, QD ( 1 EVERY 1 DAYS)
     Route: 065
  39. ACETAMINOPHEN [Interacting]
     Active Substance: ACETAMINOPHEN
     Dosage: 600 MILLIGRAM
     Route: 065
  40. ACETAMINOPHEN [Interacting]
     Active Substance: ACETAMINOPHEN
     Dosage: 50 MILLIGRAM, QD
     Route: 065
  41. ASPIRIN [Interacting]
     Active Substance: ASPIRIN
     Indication: Cerebrovascular accident
     Dosage: 1 DOSAGE FORM, BID (1 EVERY 12 HOURS)
     Route: 065
  42. ASPIRIN [Interacting]
     Active Substance: ASPIRIN
     Indication: Hypertension
     Dosage: UNK
     Route: 065
  43. ASPIRIN [Interacting]
     Active Substance: ASPIRIN
     Indication: Coronary artery disease
  44. ASPIRIN [Interacting]
     Active Substance: ASPIRIN
     Indication: Angina pectoris
  45. ROSUVASTATIN CALCIUM [Interacting]
     Active Substance: ROSUVASTATIN CALCIUM
     Indication: Cerebrovascular accident
     Dosage: 20 MILLIGRAM, BID (1 EVERY 12 HOURS)
     Route: 065
  46. ROSUVASTATIN CALCIUM [Interacting]
     Active Substance: ROSUVASTATIN CALCIUM
     Indication: Insomnia
     Dosage: 20 MILLIGRAM
     Route: 065
  47. ROSUVASTATIN CALCIUM [Interacting]
     Active Substance: ROSUVASTATIN CALCIUM
     Indication: Hypertension
     Dosage: 20 MILLIGRAM, BID (2 EVERY 1 DAYS)
     Route: 065
  48. ROSUVASTATIN CALCIUM [Interacting]
     Active Substance: ROSUVASTATIN CALCIUM
     Indication: Coronary artery disease
     Dosage: 10 MILLIGRAM
     Route: 065
  49. ROSUVASTATIN CALCIUM [Interacting]
     Active Substance: ROSUVASTATIN CALCIUM
     Indication: Chronic obstructive pulmonary disease
     Dosage: 40 MILLIGRAM, BID (1 EVERY 1 DAYS)
     Route: 048
  50. ROSUVASTATIN CALCIUM [Interacting]
     Active Substance: ROSUVASTATIN CALCIUM
     Indication: Chest pain
     Dosage: UNK
     Route: 058
  51. ROSUVASTATIN CALCIUM [Interacting]
     Active Substance: ROSUVASTATIN CALCIUM
     Indication: Angina pectoris
     Dosage: 20 MILLIGRAM
     Route: 048
  52. ROSUVASTATIN CALCIUM [Interacting]
     Active Substance: ROSUVASTATIN CALCIUM
     Dosage: 400 MILLIGRAM, QD (1 EVERY 1 DAYS)
     Route: 048
  53. ROSUVASTATIN CALCIUM [Interacting]
     Active Substance: ROSUVASTATIN CALCIUM
     Dosage: 1.67 MILLIGRAM
     Route: 048
  54. ROSUVASTATIN CALCIUM [Interacting]
     Active Substance: ROSUVASTATIN CALCIUM
     Dosage: 10 MILLIGRAM, QD (1 EVERY 1 DAYS)
     Route: 048
  55. ROSUVASTATIN CALCIUM [Interacting]
     Active Substance: ROSUVASTATIN CALCIUM
     Dosage: 200 MILLIGRAM, BID (1 EVERY 12 HOURS)
     Route: 065
  56. ROSUVASTATIN CALCIUM [Interacting]
     Active Substance: ROSUVASTATIN CALCIUM
     Dosage: UNK
     Route: 048
  57. ROSUVASTATIN CALCIUM [Interacting]
     Active Substance: ROSUVASTATIN CALCIUM
     Dosage: 400 MILLIGRAM, QD (1 EVERY 1 DAYS)
     Route: 065
  58. ROSUVASTATIN CALCIUM [Interacting]
     Active Substance: ROSUVASTATIN CALCIUM
     Dosage: 40 MILLIGRAM
     Route: 065
  59. LEVOFLOXACIN [Interacting]
     Active Substance: LEVOFLOXACIN
     Indication: Urinary tract infection
     Dosage: UNK
     Route: 065
  60. LEVOFLOXACIN [Interacting]
     Active Substance: LEVOFLOXACIN
     Indication: Thyroid disorder
     Dosage: 15 MILLIGRAM
     Route: 065
  61. LEVOFLOXACIN [Interacting]
     Active Substance: LEVOFLOXACIN
     Dosage: 200 MILLIGRAM, QD (1 EVERY 1 DAYS)
     Route: 065
  62. LEVOFLOXACIN [Interacting]
     Active Substance: LEVOFLOXACIN
     Dosage: 250 MILLIGRAM
     Route: 065
  63. LEVOFLOXACIN [Interacting]
     Active Substance: LEVOFLOXACIN
     Dosage: 250 MILLIGRAM, QD (1 EVERY 1 DAYS)
     Route: 065
  64. LEVOFLOXACIN [Interacting]
     Active Substance: LEVOFLOXACIN
     Dosage: 250 MILLIGRAM, QD (1 EVERY 12 HOURS)
     Route: 065
  65. MAGNESIUM OXIDE [Interacting]
     Active Substance: MAGNESIUM OXIDE
     Indication: Constipation
     Dosage: UNK
     Route: 065
  66. MAGNESIUM OXIDE [Interacting]
     Active Substance: MAGNESIUM OXIDE
     Dosage: 1 DOSAGE FORM, BID (1 EVERY 12 HOURS)
     Route: 065
  67. MAGNESIUM OXIDE [Interacting]
     Active Substance: MAGNESIUM OXIDE
     Dosage: 2 DOSAGE FORM, QD
     Route: 065
  68. MAGNESIUM OXIDE [Interacting]
     Active Substance: MAGNESIUM OXIDE
     Dosage: 622 MILLIGRAM, QD
     Route: 065
  69. CALCIUM CARBONATE [Interacting]
     Active Substance: CALCIUM CARBONATE
     Indication: Product used for unknown indication
     Dosage: UNK
     Route: 065
  70. ACEBUTOLOL HYDROCHLORIDE [Interacting]
     Active Substance: ACEBUTOLOL HYDROCHLORIDE
     Indication: Hypertension
     Dosage: 100 MILLIGRAM, BID (2 EVERY 1 DAYS)
     Route: 065
  71. ACEBUTOLOL HYDROCHLORIDE [Interacting]
     Active Substance: ACEBUTOLOL HYDROCHLORIDE
     Indication: Coronary artery disease
     Dosage: 200 MILLIGRAM, BID (2 EVERY 1 DAYS)
     Route: 065
  72. ACEBUTOLOL HYDROCHLORIDE [Interacting]
     Active Substance: ACEBUTOLOL HYDROCHLORIDE
     Indication: Angina pectoris
     Dosage: 200 MILLIGRAM
     Route: 065
  73. ACEBUTOLOL HYDROCHLORIDE [Interacting]
     Active Substance: ACEBUTOLOL HYDROCHLORIDE
     Indication: Constipation
     Dosage: 500 MILLIGRAM
     Route: 065
  74. ACEBUTOLOL HYDROCHLORIDE [Interacting]
     Active Substance: ACEBUTOLOL HYDROCHLORIDE
     Indication: Chest pain
     Dosage: 50 MILLIGRAM, QD (1 EVERY 1 DAYS)
     Route: 065
  75. ACEBUTOLOL HYDROCHLORIDE [Interacting]
     Active Substance: ACEBUTOLOL HYDROCHLORIDE
     Dosage: 1000 MILLIGRAM, QW (1 EVERY 1 WEEKS)
     Route: 065
  76. ACEBUTOLOL HYDROCHLORIDE [Interacting]
     Active Substance: ACEBUTOLOL HYDROCHLORIDE
     Dosage: 800 MILLIGRAM, QW (1 EVERY 1 WEEKS)
     Route: 065
  77. ACEBUTOLOL HYDROCHLORIDE [Interacting]
     Active Substance: ACEBUTOLOL HYDROCHLORIDE
     Dosage: 500 MILLIGRAM, QW (1 EVERY 1 WEEKS)
     Route: 065
  78. ACEBUTOLOL HYDROCHLORIDE [Interacting]
     Active Substance: ACEBUTOLOL HYDROCHLORIDE
     Dosage: 100 MILLIGRAM, QW (1 EVERY 1 WEEKS)
     Route: 065
  79. ACEBUTOLOL HYDROCHLORIDE [Interacting]
     Active Substance: ACEBUTOLOL HYDROCHLORIDE
     Dosage: 50 MILLIGRAM
     Route: 065
  80. ACEBUTOLOL HYDROCHLORIDE [Interacting]
     Active Substance: ACEBUTOLOL HYDROCHLORIDE
     Dosage: 200 MILLIGRAM, QW (1 EVERY 1 WEEKS)
     Route: 065
  81. ACEBUTOLOL HYDROCHLORIDE [Interacting]
     Active Substance: ACEBUTOLOL HYDROCHLORIDE
     Dosage: 200 MILLIGRAM, QD (1 EVERY 1 DAYS)
     Route: 065
  82. ACEBUTOLOL HYDROCHLORIDE [Interacting]
     Active Substance: ACEBUTOLOL HYDROCHLORIDE
     Dosage: 400 MILLIGRAM, QW (1 EVERY 1 WEEKS)
     Route: 065
  83. ACEBUTOLOL HYDROCHLORIDE [Interacting]
     Active Substance: ACEBUTOLOL HYDROCHLORIDE
     Dosage: 100 MILLIGRAM
     Route: 065
  84. ACEBUTOLOL HYDROCHLORIDE [Interacting]
     Active Substance: ACEBUTOLOL HYDROCHLORIDE
     Dosage: 100 MILLIGRAM (5 EVERY 1 DAYS)
     Route: 065
  85. ACEBUTOLOL HYDROCHLORIDE [Interacting]
     Active Substance: ACEBUTOLOL HYDROCHLORIDE
     Dosage: 50 MILLIGRAM, BID (2 EVERY 1 DAYS)
     Route: 065
  86. ACEBUTOLOL HYDROCHLORIDE [Interacting]
     Active Substance: ACEBUTOLOL HYDROCHLORIDE
     Dosage: 100 MILLIGRAM, QD (1 EVERY 1 DAY)
     Route: 065
  87. ACEBUTOLOL HYDROCHLORIDE [Interacting]
     Active Substance: ACEBUTOLOL HYDROCHLORIDE
     Dosage: 400 MILLIGRAM, QD (1 EVERY 1 DAY)
     Route: 065
  88. ACEBUTOLOL HYDROCHLORIDE [Interacting]
     Active Substance: ACEBUTOLOL HYDROCHLORIDE
     Dosage: UNK
     Route: 065
  89. ACEBUTOLOL HYDROCHLORIDE [Interacting]
     Active Substance: ACEBUTOLOL HYDROCHLORIDE
     Dosage: 50 MILLIGRAM, (1 EVERY 12 HOURS)
     Route: 065
  90. ACEBUTOLOL HYDROCHLORIDE [Interacting]
     Active Substance: ACEBUTOLOL HYDROCHLORIDE
     Dosage: 200 MILLIGRAM, (1 EVERY 12 HOURS)
     Route: 065
  91. AMITRIPTYLINE [Interacting]
     Active Substance: AMITRIPTYLINE
     Indication: Insomnia
     Dosage: 50 MILLIGRAM, QD (1 EVERY 1 DAYS)
     Route: 065
  92. AMITRIPTYLINE [Interacting]
     Active Substance: AMITRIPTYLINE
     Indication: Chest pain
     Dosage: 75 MILLIGRAM, QD (1 EVERY 1 DAYS)
     Route: 065
  93. AMITRIPTYLINE [Interacting]
     Active Substance: AMITRIPTYLINE
     Dosage: 25 MILLIGRAM, QD
     Route: 065
  94. AMITRIPTYLINE HYDROCHLORIDE [Interacting]
     Active Substance: AMITRIPTYLINE HYDROCHLORIDE
     Indication: Thyroid disorder
     Dosage: UNK
     Route: 065
  95. AMITRIPTYLINE HYDROCHLORIDE [Interacting]
     Active Substance: AMITRIPTYLINE HYDROCHLORIDE
     Indication: Radioactive iodine therapy
     Dosage: 50 MILLIGRAM, QD (1 EVERY 1 DAYS)
     Route: 065
  96. AMITRIPTYLINE HYDROCHLORIDE [Interacting]
     Active Substance: AMITRIPTYLINE HYDROCHLORIDE
     Indication: Prophylaxis
     Dosage: 75 MILLIGRAM, QD (1 EVERY 1 DAYS)
     Route: 065
  97. AMITRIPTYLINE HYDROCHLORIDE [Interacting]
     Active Substance: AMITRIPTYLINE HYDROCHLORIDE
     Indication: Pain
     Dosage: UNK
     Route: 048
  98. AMITRIPTYLINE HYDROCHLORIDE [Interacting]
     Active Substance: AMITRIPTYLINE HYDROCHLORIDE
     Indication: Oedema
     Dosage: 2 MILLIGRAM
     Route: 065
  99. AMITRIPTYLINE HYDROCHLORIDE [Interacting]
     Active Substance: AMITRIPTYLINE HYDROCHLORIDE
     Indication: Insomnia
     Dosage: 5 MILLIGRAM
     Route: 065
  100. AMITRIPTYLINE HYDROCHLORIDE [Interacting]
     Active Substance: AMITRIPTYLINE HYDROCHLORIDE
     Indication: Hypertension
     Dosage: 5 MILLIGRAM, QD (1 EVERY 1 DAYS)
     Route: 065
  101. AMITRIPTYLINE HYDROCHLORIDE [Interacting]
     Active Substance: AMITRIPTYLINE HYDROCHLORIDE
     Indication: Fibromyalgia
     Dosage: 15 MILLIGRAM
     Route: 065
  102. AMITRIPTYLINE HYDROCHLORIDE [Interacting]
     Active Substance: AMITRIPTYLINE HYDROCHLORIDE
     Indication: Duodenal ulcer
     Dosage: 18 MILLIGRAM
     Route: 065
  103. AMITRIPTYLINE HYDROCHLORIDE [Interacting]
     Active Substance: AMITRIPTYLINE HYDROCHLORIDE
     Indication: Dementia
     Dosage: 25 MILLIGRAM, QD (1 EVERY 1 DAYS)
     Route: 065
  104. AMITRIPTYLINE HYDROCHLORIDE [Interacting]
     Active Substance: AMITRIPTYLINE HYDROCHLORIDE
     Indication: Coronary artery disease
     Dosage: 650 MILLIGRAM
     Route: 065
  105. AMITRIPTYLINE HYDROCHLORIDE [Interacting]
     Active Substance: AMITRIPTYLINE HYDROCHLORIDE
     Indication: Constipation
     Dosage: 750 MILLIGRAM, QD (1 EVERY 1 DAYS)
     Route: 065
  106. AMITRIPTYLINE HYDROCHLORIDE [Interacting]
     Active Substance: AMITRIPTYLINE HYDROCHLORIDE
     Indication: Chest pain
     Dosage: 360 MILLIGRAM
     Route: 065
  107. AMITRIPTYLINE HYDROCHLORIDE [Interacting]
     Active Substance: AMITRIPTYLINE HYDROCHLORIDE
     Indication: Arthritis
     Dosage: 0.6 MILLIGRAM
     Route: 065
  108. AMITRIPTYLINE HYDROCHLORIDE [Interacting]
     Active Substance: AMITRIPTYLINE HYDROCHLORIDE
     Indication: Angina pectoris
     Dosage: 200 MILLIGRAM
     Route: 065
  109. AMITRIPTYLINE HYDROCHLORIDE [Interacting]
     Active Substance: AMITRIPTYLINE HYDROCHLORIDE
     Dosage: 500 MILLIGRAM, QD (1 EVERY 1 DAYS)
     Route: 065
  110. AMITRIPTYLINE HYDROCHLORIDE [Interacting]
     Active Substance: AMITRIPTYLINE HYDROCHLORIDE
     Dosage: 16 MILLIGRAM
     Route: 065
  111. AMITRIPTYLINE HYDROCHLORIDE [Interacting]
     Active Substance: AMITRIPTYLINE HYDROCHLORIDE
     Dosage: 0.4 MILLIGRAM
     Route: 065
  112. BISACODYL [Interacting]
     Active Substance: BISACODYL
     Indication: Constipation
     Dosage: 2 DOSAGE FORM, QD (1 EVERY 1 DAYS)
     Route: 065
  113. BISACODYL [Interacting]
     Active Substance: BISACODYL
     Indication: Chronic obstructive pulmonary disease
     Dosage: 1 DOSAGE FORM, QD (1 EVERY 1 DAYS)
     Route: 065
  114. BISACODYL [Interacting]
     Active Substance: BISACODYL
     Dosage: 2 DOSAGE FORM
     Route: 065
  115. BISACODYL [Interacting]
     Active Substance: BISACODYL
     Dosage: UNK
     Route: 065
  116. BISACODYL [Interacting]
     Active Substance: BISACODYL
     Dosage: UNK, QD (1 EVERY 1 DAYS)
     Route: 065
  117. BISACODYL [Interacting]
     Active Substance: BISACODYL
     Dosage: 650 MILLIGRAM, QD (1 EVERY 1 DAY)
     Route: 065
  118. CARBAMAZEPINE [Interacting]
     Active Substance: CARBAMAZEPINE
     Indication: Seizure
     Dosage: 100 MILLIGRAM, BID (1 EVERY 12 HOURS)
     Route: 065
  119. CARBAMAZEPINE [Interacting]
     Active Substance: CARBAMAZEPINE
     Indication: Pain
     Dosage: 200 MILLIGRAM, BID (2 EVERY 1 DAYS)
     Route: 065
  120. CARBAMAZEPINE [Interacting]
     Active Substance: CARBAMAZEPINE
     Indication: Fibromyalgia
     Dosage: UNK
     Route: 065
  121. CARBAMAZEPINE [Interacting]
     Active Substance: CARBAMAZEPINE
     Indication: Bladder disorder
     Dosage: 500 MILLIGRAM, BID (1 EVERY 12 HOURS)
     Route: 065
  122. CARBAMAZEPINE [Interacting]
     Active Substance: CARBAMAZEPINE
     Indication: Seizure prophylaxis
     Dosage: 100 MILLIGRAM, QD (1 EVERY 1 DAYS)
     Route: 065
  123. CARBAMAZEPINE [Interacting]
     Active Substance: CARBAMAZEPINE
     Dosage: 1 DOSAGE FORM, BID (1 EVERY 12 HOURS)
     Route: 065
  124. CARBAMAZEPINE [Interacting]
     Active Substance: CARBAMAZEPINE
     Dosage: 100 MILLIGRAM, BID (2 EVERY 1 DAYS)
     Route: 065
  125. CARBAMAZEPINE [Interacting]
     Active Substance: CARBAMAZEPINE
     Dosage: 800 MILLIGRAM, BID (2 EVERY 1 DAYS)
     Route: 065
  126. CARBAMAZEPINE [Interacting]
     Active Substance: CARBAMAZEPINE
     Dosage: 2000 MILLIGRAM, QD (1 EVERY 1 DAYS)
     Route: 065
  127. CARBAMAZEPINE [Interacting]
     Active Substance: CARBAMAZEPINE
     Dosage: 200 MILLIGRAM
     Route: 065
  128. CARBAMAZEPINE [Interacting]
     Active Substance: CARBAMAZEPINE
     Dosage: 2 DOSAGE FORM, QD (1 EVERY 1 DAYS)
     Route: 065
  129. CARBAMAZEPINE [Interacting]
     Active Substance: CARBAMAZEPINE
     Dosage: 100 MILLIGRAM
     Route: 065
  130. CARBAMAZEPINE [Interacting]
     Active Substance: CARBAMAZEPINE
     Dosage: 400 MILLIGRAM, BID (2 EVERY 1 DAYS)
     Route: 065
  131. CARBAMAZEPINE [Interacting]
     Active Substance: CARBAMAZEPINE
     Dosage: 2 DOSAGE FORM, BID (1 EVERY 12 HOURS)
     Route: 065
  132. CARBAMAZEPINE [Interacting]
     Active Substance: CARBAMAZEPINE
     Dosage: 1 DOSAGE FORM
     Route: 065
  133. CARBAMAZEPINE [Interacting]
     Active Substance: CARBAMAZEPINE
     Dosage: 10 MILLIGRAM
     Route: 065
  134. CARBAMAZEPINE [Interacting]
     Active Substance: CARBAMAZEPINE
     Dosage: UNK, BID (2 EVERY 1 DAYS)
     Route: 065
  135. CARBAMAZEPINE [Interacting]
     Active Substance: CARBAMAZEPINE
     Dosage: 1 DOSAGE FORM, QD (1 EVERY 1 DAYS)
     Route: 065
  136. CRANBERRY [Interacting]
     Active Substance: CRANBERRY
     Indication: Bladder disorder
     Dosage: UNK
     Route: 065
  137. CRANBERRY [Interacting]
     Active Substance: CRANBERRY
     Dosage: 500 MILLIGRAM, TID (1 EVERY 8 HOURS)
     Route: 065
  138. CYCLOBENZAPRINE [Interacting]
     Active Substance: CYCLOBENZAPRINE
     Indication: Fibromyalgia
     Dosage: 5 MILLIGRAM, BID (1 EVERY 12 HOURS)
     Route: 065
  139. CYCLOBENZAPRINE [Interacting]
     Active Substance: CYCLOBENZAPRINE
     Indication: Seizure prophylaxis
     Dosage: 5 MILLIGRAM, TID (1 EVERY 8 HOURS)
     Route: 065
  140. CYCLOBENZAPRINE [Interacting]
     Active Substance: CYCLOBENZAPRINE
     Indication: Seizure
     Dosage: UNK
     Route: 065
  141. CYCLOBENZAPRINE [Interacting]
     Active Substance: CYCLOBENZAPRINE
     Indication: Pain
     Dosage: 5.61 MILLIGRAM, QD (1 EVERY 1 DAYS)
     Route: 065
  142. CYCLOBENZAPRINE [Interacting]
     Active Substance: CYCLOBENZAPRINE
     Dosage: 15 MILLIGRAM, QD (1 EVERY 1 DAYS)
     Route: 065
  143. CYCLOBENZAPRINE [Interacting]
     Active Substance: CYCLOBENZAPRINE
     Dosage: (1 EVERY 8 HOURS)
     Route: 065
  144. CYCLOBENZAPRINE [Interacting]
     Active Substance: CYCLOBENZAPRINE
     Dosage: UNK UNK, QD (1 EVERY 1 DAYS)
     Route: 065
  145. CYCLOBENZAPRINE [Interacting]
     Active Substance: CYCLOBENZAPRINE
     Dosage: 5 MILLIGRAM, TID (3 EVERY 1 DAYS)
     Route: 065
  146. CYCLOBENZAPRINE [Interacting]
     Active Substance: CYCLOBENZAPRINE
     Dosage: 5 MILLIGRAM, BID (2 EVERY 1 DAYS)
     Route: 065
  147. CYCLOBENZAPRINE [Interacting]
     Active Substance: CYCLOBENZAPRINE
     Dosage: 1.87 MILLIGRAM
     Route: 065
  148. CYCLOBENZAPRINE [Interacting]
     Active Substance: CYCLOBENZAPRINE
     Dosage: 100 MILLIGRAM, BID (2 EVERY 1 DAYS)
     Route: 065
  149. CYCLOBENZAPRINE [Interacting]
     Active Substance: CYCLOBENZAPRINE
     Dosage: 200 MILLIGRAM, BID (2 EVERY 1 DAYS)
     Route: 065
  150. CYCLOBENZAPRINE [Interacting]
     Active Substance: CYCLOBENZAPRINE
     Dosage: 1.87 MILLIGRAM, QD (1 EVERY 1 DAYS)
     Route: 065
  151. CYCLOBENZAPRINE [Interacting]
     Active Substance: CYCLOBENZAPRINE
     Dosage: 15 MILLIGRAM, TID (3 EVERY 1 DAYS)
     Route: 065
  152. CYCLOBENZAPRINE [Interacting]
     Active Substance: CYCLOBENZAPRINE
     Dosage: 0.63 MILLIGRAM, BID (1 EVERY 12 HOURS)
     Route: 065
  153. CYCLOBENZAPRINE [Interacting]
     Active Substance: CYCLOBENZAPRINE
     Dosage: 45 MILLIGRAM, QD (1 EVERY 1 DAYS)
     Route: 065
  154. CYCLOBENZAPRINE [Interacting]
     Active Substance: CYCLOBENZAPRINE
     Dosage: 10 MILLIGRAM, QD (1 EVERY 1 DAYS)
     Route: 065
  155. CYCLOBENZAPRINE [Interacting]
     Active Substance: CYCLOBENZAPRINE
     Dosage: 2 MILLIGRAM, QD (1 EVERY 1 DAYS)
     Route: 065
  156. CYCLOBENZAPRINE [Interacting]
     Active Substance: CYCLOBENZAPRINE
     Dosage: 1.87 MILLIGRAM, TID (3 EVERY 1 DAYS)
     Route: 065
  157. CYCLOBENZAPRINE [Interacting]
     Active Substance: CYCLOBENZAPRINE
     Dosage: 5 MILLIGRAM, TID (3 EVERY 1 DAYS)
     Route: 065
  158. CYCLOBENZAPRINE [Interacting]
     Active Substance: CYCLOBENZAPRINE
     Dosage: 0.83 MILLIGRAM
     Route: 065
  159. CYCLOBENZAPRINE [Interacting]
     Active Substance: CYCLOBENZAPRINE
     Dosage: UNK
     Route: 048
  160. CYCLOBENZAPRINE [Interacting]
     Active Substance: CYCLOBENZAPRINE
     Dosage: 15 MILLIGRAM, TID (1 EVERY 8 HOURS)
     Route: 065
  161. CYCLOBENZAPRINE [Interacting]
     Active Substance: CYCLOBENZAPRINE
     Dosage: 0.63 MILLIGRAM
     Route: 065
  162. CYCLOBENZAPRINE [Interacting]
     Active Substance: CYCLOBENZAPRINE
     Dosage: 5 MILLIGRAM
     Route: 065
  163. CYCLOBENZAPRINE [Interacting]
     Active Substance: CYCLOBENZAPRINE
     Dosage: UNK
     Route: 058
  164. CYCLOBENZAPRINE [Interacting]
     Active Substance: CYCLOBENZAPRINE
     Dosage: 200 MILLIGRAM
     Route: 065
  165. CYCLOBENZAPRINE [Interacting]
     Active Substance: CYCLOBENZAPRINE
     Dosage: 200 MILLIGRAM, QD (1 EVERY 1 DAYS)
     Route: 065
  166. CYCLOBENZAPRINE [Interacting]
     Active Substance: CYCLOBENZAPRINE
     Dosage: 200 MILLIGRAM, BID (2 EVERY 12 HOURS)
     Route: 065
  167. CYCLOBENZAPRINE [Interacting]
     Active Substance: CYCLOBENZAPRINE
     Dosage: 100 MILLIGRAM, BID (1 EVERY 12 HOURS)
     Route: 065
  168. CYCLOBENZAPRINE [Interacting]
     Active Substance: CYCLOBENZAPRINE
     Dosage: 200 MILLIGRAM, QD (1 EVERY 12 HOURS)
     Route: 065
  169. DILTIAZEM [Interacting]
     Active Substance: DILTIAZEM
     Indication: Hypertension
     Dosage: UNK
     Route: 065
  170. DILTIAZEM [Interacting]
     Active Substance: DILTIAZEM
     Indication: Coronary artery disease
     Dosage: 360 MILLIGRAM, QD (1 EVERY 1 DAYS)
     Route: 065
  171. DILTIAZEM [Interacting]
     Active Substance: DILTIAZEM
     Indication: Angina pectoris
  172. MAGNESIUM HYDROXIDE [Interacting]
     Active Substance: MAGNESIUM HYDROXIDE
     Indication: Constipation
     Dosage: 622 MILLIGRAM, BID (2 EVERY 1 DAYS)
     Route: 065
  173. MAGNESIUM HYDROXIDE [Interacting]
     Active Substance: MAGNESIUM HYDROXIDE
     Dosage: 622 MILLIGRAM
     Route: 065
  174. MAGNESIUM HYDROXIDE [Interacting]
     Active Substance: MAGNESIUM HYDROXIDE
     Dosage: UNK UNK, BID (2 EVERY 1 DAYS)
     Route: 065
  175. MAGNESIUM HYDROXIDE [Interacting]
     Active Substance: MAGNESIUM HYDROXIDE
     Dosage: 4 DOSAGE FORM, QD (1 EVERY 1 DAY)
     Route: 065
  176. MAGNESIUM HYDROXIDE [Interacting]
     Active Substance: MAGNESIUM HYDROXIDE
     Dosage: 1240 MILLIGRAM, QD (1 EVERY 1 DAY)
     Route: 065
  177. MAGNESIUM HYDROXIDE [Interacting]
     Active Substance: MAGNESIUM HYDROXIDE
     Dosage: 2488 MILLIGRAM, QD (1 EVERY 1 DAY)
     Route: 065
  178. MAGNESIUM HYDROXIDE [Interacting]
     Active Substance: MAGNESIUM HYDROXIDE
     Dosage: 2 DOSAGE FORM, QD (1 EVERY 1 DAY)
     Route: 065
  179. MAGNESIUM HYDROXIDE [Interacting]
     Active Substance: MAGNESIUM HYDROXIDE
     Dosage: 311 MILLIGRAM
     Route: 065
  180. MAGNESIUM HYDROXIDE [Interacting]
     Active Substance: MAGNESIUM HYDROXIDE
     Dosage: 622 MILLIGRAM, QD (1 EVERY 1 DAY)
     Route: 065
  181. MAGNESIUM HYDROXIDE [Interacting]
     Active Substance: MAGNESIUM HYDROXIDE
     Dosage: 10 MILLIGRAM, QD (1 EVERY 1 DAY)
     Route: 065
  182. MAGNESIUM HYDROXIDE [Interacting]
     Active Substance: MAGNESIUM HYDROXIDE
     Dosage: 622 MILLIGRAM, BID (1 EVERY 12 HOURS)
     Route: 065
  183. DIPYRIDAMOLE [Interacting]
     Active Substance: DIPYRIDAMOLE
     Indication: Cerebrovascular accident
     Dosage: 1 DOSAGE FORM, (1 EVERY 12 HOURS)
     Route: 065
  184. DIPYRIDAMOLE [Interacting]
     Active Substance: DIPYRIDAMOLE
     Dosage: 400 MILLIGRAM, QD (1 EVERY 1 DAYS)
     Route: 065
  185. DIPYRIDAMOLE [Interacting]
     Active Substance: DIPYRIDAMOLE
     Dosage: 2 DOSAGE FORM, QOD (1 EVERY 2 DAYS)
     Route: 065
  186. DIPYRIDAMOLE [Interacting]
     Active Substance: DIPYRIDAMOLE
     Dosage: 1 DOSAGE FORM, QD (1 EVERY 1 DAYS)
     Route: 065
  187. DIPYRIDAMOLE [Interacting]
     Active Substance: DIPYRIDAMOLE
     Dosage: 1 DOSAGE FORM, (1 EVERY 12 HOURS)
     Route: 065
  188. DIPYRIDAMOLE [Interacting]
     Active Substance: DIPYRIDAMOLE
     Dosage: 25 MILLIGRAM
     Route: 065
  189. DIPYRIDAMOLE [Interacting]
     Active Substance: DIPYRIDAMOLE
     Dosage: 1 DOSAGE FORM
     Route: 065
  190. DIPYRIDAMOLE [Interacting]
     Active Substance: DIPYRIDAMOLE
     Dosage: 1 DOSAGE FORM, QD (1 EVERY 1 DAYS)
     Route: 065
  191. DIPYRIDAMOLE [Interacting]
     Active Substance: DIPYRIDAMOLE
     Dosage: 360 MILLIGRAM, QD (1 EVERY 1 DAYS)
     Route: 065
  192. DIPYRIDAMOLE [Interacting]
     Active Substance: DIPYRIDAMOLE
     Dosage: 1 DOSAGE FORM, (1 EVERY 12 HOURS)
     Route: 065
  193. DIPYRIDAMOLE [Interacting]
     Active Substance: DIPYRIDAMOLE
     Dosage: 1 DOSAGE FORM, BID (2 EVERY 1 DAYS)
     Route: 065
  194. DIPYRIDAMOLE [Interacting]
     Active Substance: DIPYRIDAMOLE
     Dosage: 0.5 MILLIGRAM
     Route: 065
  195. DIPYRIDAMOLE [Interacting]
     Active Substance: DIPYRIDAMOLE
     Dosage: 1 DOSAGE FORM
     Route: 065
  196. DIPYRIDAMOLE [Interacting]
     Active Substance: DIPYRIDAMOLE
     Dosage: UNK UNK, QD (1 EVERY 1 DAYS)
     Route: 065
  197. DIPYRIDAMOLE [Interacting]
     Active Substance: DIPYRIDAMOLE
     Dosage: 2 DOSAGE FORM, BID (2 EVERY 1 DAYS
     Route: 065
  198. DIPYRIDAMOLE [Interacting]
     Active Substance: DIPYRIDAMOLE
     Dosage: 0.5 MILLIGRAM
     Route: 065
  199. DIPYRIDAMOLE [Interacting]
     Active Substance: DIPYRIDAMOLE
     Dosage: 25 MILLIGRAM
     Route: 065
  200. DIPYRIDAMOLE [Interacting]
     Active Substance: DIPYRIDAMOLE
     Dosage: 200 MILLIGRAM, BID (2 EVERY 1 DAYS)
     Route: 065
  201. FUROSEMIDE [Interacting]
     Active Substance: FUROSEMIDE
     Indication: Oedema
     Dosage: UNK
     Route: 065
  202. FUROSEMIDE [Interacting]
     Active Substance: FUROSEMIDE
     Indication: Coronary artery disease
     Dosage: 4 MICROGRAM, QD (1 EVERY 1 DAYS)
     Route: 065
  203. FUROSEMIDE [Interacting]
     Active Substance: FUROSEMIDE
     Indication: Constipation
     Dosage: 20 MICROGRAM, QD (1 EVERY 1 DAYS)
     Route: 061
  204. FUROSEMIDE [Interacting]
     Active Substance: FUROSEMIDE
     Indication: Chest pain
     Dosage: 40 MICROGRAM
     Route: 065
  205. FUROSEMIDE [Interacting]
     Active Substance: FUROSEMIDE
     Indication: Angina pectoris
     Dosage: 40 MICROGRAM, QD (1 EVERY 1 DAYS (1 EVERY 1 DAYS)
     Route: 065
  206. FUROSEMIDE [Interacting]
     Active Substance: FUROSEMIDE
     Dosage: 10 MILLIGRAM, QD (1 EVERY 1 DAYS)
     Route: 065
  207. FUROSEMIDE [Interacting]
     Active Substance: FUROSEMIDE
     Dosage: 40 MILLIGRAM, QD (1 EVERY 1 DAYS)
     Route: 065
  208. FUROSEMIDE [Interacting]
     Active Substance: FUROSEMIDE
     Dosage: 20 MILLIGRAM, QD (1 EVERY 1 DAYS)
     Route: 065
  209. GALANTAMINE HYDROBROMIDE [Interacting]
     Active Substance: GALANTAMINE HYDROBROMIDE
     Indication: Dementia
     Dosage: UNK
     Route: 065
  210. GALANTAMINE HYDROBROMIDE [Interacting]
     Active Substance: GALANTAMINE HYDROBROMIDE
     Dosage: 16 MILLIGRAM
     Route: 065
  211. GALANTAMINE HYDROBROMIDE [Interacting]
     Active Substance: GALANTAMINE HYDROBROMIDE
     Dosage: 16 MILLIGRAM, QD (1 EVERY 1 DAY)
     Route: 065
  212. GALANTAMINE HYDROBROMIDE [Interacting]
     Active Substance: GALANTAMINE HYDROBROMIDE
     Dosage: 18 MILLIGRAM, QD (1 EVERY 1 DAY)
     Route: 065
  213. GLUCOSAMINE [Interacting]
     Active Substance: GLUCOSAMINE
     Indication: Arthritis
     Dosage: 500 MILLIGRAM, BID (1 EVERY 12 HOURS)
     Route: 065
  214. GLUCOSAMINE [Interacting]
     Active Substance: GLUCOSAMINE
     Indication: Pain
     Dosage: 2500 MILLIGRAM, QD (1 EVERY 1 DAYS)
     Route: 065
  215. GLUCOSAMINE [Interacting]
     Active Substance: GLUCOSAMINE
     Dosage: 500 MILLIGRAM, QD (1 EVERY 1 DAYS)
     Route: 065
  216. GLUCOSAMINE [Interacting]
     Active Substance: GLUCOSAMINE
     Dosage: 1000 MILLIGRAM, QD (1 EVERY 1 DAYS)
     Route: 065
  217. GLUCOSAMINE [Interacting]
     Active Substance: GLUCOSAMINE
     Dosage: 500 MILLIGRAM, BID (2 EVERY 1 DAYS)
     Route: 065
  218. GLUCOSAMINE [Interacting]
     Active Substance: GLUCOSAMINE
     Dosage: UNK
     Route: 065
  219. GLUCOSAMINE [Interacting]
     Active Substance: GLUCOSAMINE
     Dosage: 500 MILLIGRAM
     Route: 065
  220. GLUCOSAMINE [Interacting]
     Active Substance: GLUCOSAMINE
     Dosage: 250 MILLIGRAM, QD (1 EVERY 1 DAY)
     Route: 065
  221. LACTULOSE [Interacting]
     Active Substance: LACTULOSE
     Indication: Constipation
     Dosage: 15 MILLILITER
     Route: 048
  222. LACTULOSE [Interacting]
     Active Substance: LACTULOSE
     Indication: Thyroid disorder
     Dosage: 15 MILLIGRAM, QD ( 1 EVERY 1 DAYS)
     Route: 048
  223. LACTULOSE [Interacting]
     Active Substance: LACTULOSE
     Indication: Radioactive iodine therapy
     Dosage: 2 DOSAGE FORM, QD (1 EVERY 1 DAYS)
     Route: 065
  224. LACTULOSE [Interacting]
     Active Substance: LACTULOSE
     Indication: Constipation
  225. OMEPRAZOLE MAGNESIUM [Interacting]
     Active Substance: OMEPRAZOLE MAGNESIUM
     Indication: Duodenal ulcer
     Dosage: UNK
     Route: 065
  226. OMEPRAZOLE MAGNESIUM [Interacting]
     Active Substance: OMEPRAZOLE MAGNESIUM
     Indication: Small intestine carcinoma
     Dosage: 20 MILLIGRAM
     Route: 065
  227. OMEPRAZOLE MAGNESIUM [Interacting]
     Active Substance: OMEPRAZOLE MAGNESIUM
     Indication: Chest pain
     Dosage: 20 MILLIGRAM, QD (1 EVERY 1 DAYS)
     Route: 065
  228. OMEPRAZOLE MAGNESIUM [Interacting]
     Active Substance: OMEPRAZOLE MAGNESIUM
     Indication: Angina pectoris
     Dosage: 20 MILLIGRAM (1 EVERY 12 HOURS)
     Route: 065
  229. OMEPRAZOLE MAGNESIUM [Interacting]
     Active Substance: OMEPRAZOLE MAGNESIUM
     Indication: Hypertension
  230. OXAZEPAM [Interacting]
     Active Substance: OXAZEPAM
     Indication: Insomnia
     Dosage: UNK
     Route: 065
  231. OXAZEPAM [Interacting]
     Active Substance: OXAZEPAM
     Indication: Cerebrovascular accident
     Dosage: 150 MILLIGRAM, QD (1 EVERY 1 DAYS)
     Route: 065
  232. OXAZEPAM [Interacting]
     Active Substance: OXAZEPAM
     Indication: Hypertension
     Dosage: 40 MILLIGRAM, QD (1 EVERY 1 DAYS)
     Route: 065
  233. OXAZEPAM [Interacting]
     Active Substance: OXAZEPAM
     Indication: Coronary artery disease
     Dosage: 20 MILLIGRAM, QD (1 EVERY 1 DAYS)
     Route: 065
  234. OXAZEPAM [Interacting]
     Active Substance: OXAZEPAM
     Indication: Angina pectoris
     Dosage: UNK
     Route: 065
  235. OXAZEPAM [Interacting]
     Active Substance: OXAZEPAM
     Dosage: 15 MILLIGRAM, QD (1 EVERY 1 DAYS)
     Route: 065
  236. QUINAPRIL HYDROCHLORIDE [Interacting]
     Active Substance: QUINAPRIL HYDROCHLORIDE
     Indication: Hypertension
     Dosage: UNK
     Route: 065
  237. QUINAPRIL HYDROCHLORIDE [Interacting]
     Active Substance: QUINAPRIL HYDROCHLORIDE
     Indication: Coronary artery disease
     Dosage: 40 MILLIGRAM, QD (1 EVERY 1 DAYS)
     Route: 065
  238. QUINAPRIL HYDROCHLORIDE [Interacting]
     Active Substance: QUINAPRIL HYDROCHLORIDE
     Indication: Angina pectoris
     Dosage: 20 MILLIGRAM, QD (1 EVERY 1 DAYS)
     Route: 065
  239. QUINAPRIL HYDROCHLORIDE [Interacting]
     Active Substance: QUINAPRIL HYDROCHLORIDE
     Indication: Seizure prophylaxis
     Dosage: 20 MILLIGRAM
     Route: 065
  240. QUINAPRIL HYDROCHLORIDE [Interacting]
     Active Substance: QUINAPRIL HYDROCHLORIDE
     Indication: Seizure
     Dosage: 40 MILLIGRAM
     Route: 065
  241. QUINAPRIL HYDROCHLORIDE [Interacting]
     Active Substance: QUINAPRIL HYDROCHLORIDE
     Indication: Insomnia
     Dosage: 400 MILLIGRAM, QD (1 EVERY 1 DAYS)
     Route: 065
  242. QUINAPRIL HYDROCHLORIDE [Interacting]
     Active Substance: QUINAPRIL HYDROCHLORIDE
     Indication: Fibromyalgia
     Dosage: 200 MILLIGRAM, QD (4 EVERY 1 DAYS)
     Route: 065
  243. QUINAPRIL HYDROCHLORIDE [Interacting]
     Active Substance: QUINAPRIL HYDROCHLORIDE
     Dosage: 20 MILLIGRAM (1 EVERY 12 HOURS)
     Route: 065
  244. QUINAPRIL HYDROCHLORIDE [Interacting]
     Active Substance: QUINAPRIL HYDROCHLORIDE
     Dosage: 800 MILLIGRAM, QD (1 EVERY 1 DAYS)
     Route: 065
  245. QUINAPRIL HYDROCHLORIDE [Interacting]
     Active Substance: QUINAPRIL HYDROCHLORIDE
     Dosage: 200 MILLIGRAM (1 EVERY 6 HOURS)
     Route: 065
  246. QUINAPRIL HYDROCHLORIDE [Interacting]
     Active Substance: QUINAPRIL HYDROCHLORIDE
     Dosage: 40 MILLIGRAM, QD (1 EVERY 1 DAYS)
     Route: 065
  247. QUINAPRIL HYDROCHLORIDE [Interacting]
     Active Substance: QUINAPRIL HYDROCHLORIDE
     Dosage: 40 MILLIGRAM, QD (1 EVERY 1 DAYS)
     Route: 048
  248. ALBUTEROL [Interacting]
     Active Substance: ALBUTEROL
     Indication: Hypertension
     Dosage: UNK, QD (1 EVERY 1 DAYS)
     Route: 065
  249. ALBUTEROL [Interacting]
     Active Substance: ALBUTEROL
     Indication: Coronary artery disease
     Dosage: 400 MILLIGRAM (4 EVERY 1 DAYS)
     Route: 065
  250. ALBUTEROL [Interacting]
     Active Substance: ALBUTEROL
     Indication: Chest pain
     Dosage: (4 EVERY 1 DAYS)
     Route: 065
  251. ALBUTEROL [Interacting]
     Active Substance: ALBUTEROL
     Indication: Angina pectoris
     Dosage: UNK UNK, QD (1 EVERY 1 DAYS)
     Route: 065
  252. ALBUTEROL [Interacting]
     Active Substance: ALBUTEROL
     Dosage: 200 MILLIGRAM (4 EVERY 1 DAYS)
     Route: 065
  253. ALBUTEROL [Interacting]
     Active Substance: ALBUTEROL
     Dosage: 100 MILLIGRAM, QD (1 EVERY 1 DAYS)
     Route: 065
  254. ALBUTEROL [Interacting]
     Active Substance: ALBUTEROL
     Dosage: 400 MILLIGRAM, QD (1 EVERY 1 DAYS)
     Route: 065
  255. ALBUTEROL [Interacting]
     Active Substance: ALBUTEROL
     Dosage: (1 EVERY 6 HOURS)
     Route: 065
  256. ALBUTEROL [Interacting]
     Active Substance: ALBUTEROL
     Dosage: 100 MILLIGRAM
     Route: 065
  257. ALBUTEROL [Interacting]
     Active Substance: ALBUTEROL
     Dosage: 800 MILLIGRAM, QD (1 EVERY 1 DAYS)
     Route: 065
  258. ALBUTEROL [Interacting]
     Active Substance: ALBUTEROL
     Dosage: 400 MILLIGRAM (1 EVERY 6 HOURS)
     Route: 065
  259. ALBUTEROL [Interacting]
     Active Substance: ALBUTEROL
     Dosage: 200 MILLIGRAM (1 EVERY 8 HOURS)
     Route: 065
  260. ALBUTEROL [Interacting]
     Active Substance: ALBUTEROL
     Dosage: UNK
     Route: 065
  261. ALBUTEROL [Interacting]
     Active Substance: ALBUTEROL
     Dosage: 200 MILLIGRAM (1 EVERY 6 HOURS)
     Route: 065
  262. ALBUTEROL [Interacting]
     Active Substance: ALBUTEROL
     Dosage: UNK, BID (2 EVERY 1 DAYS)
     Route: 065
  263. TIOTROPIUM [Interacting]
     Active Substance: TIOTROPIUM
     Indication: Chronic obstructive pulmonary disease
     Dosage: UNK
     Route: 065
  264. TIOTROPIUM [Interacting]
     Active Substance: TIOTROPIUM
     Indication: Asthma
  265. ACETAMINOSALOL\ASPIRIN\CAFFEINE [Interacting]
     Active Substance: ACETAMINOSALOL\ASPIRIN\CAFFEINE
     Indication: Product used for unknown indication
     Dosage: UNK
     Route: 065
  266. ASPIRIN\CAFFEINE [Interacting]
     Active Substance: ASPIRIN\CAFFEINE
     Indication: Product used for unknown indication
     Dosage: UNK
     Route: 065
  267. AGGRENOX [Interacting]
     Active Substance: ASPIRIN\DIPYRIDAMOLE
     Indication: Cerebrovascular accident
     Dosage: 1 DOSAGE FORM, QD (1 EVERY 1 DAY)
     Route: 065
  268. AGGRENOX [Interacting]
     Active Substance: ASPIRIN\DIPYRIDAMOLE
     Indication: Hypertension
     Dosage: 2 DOSAGE FORM, QD (2 EVERY 1 DAYS)
     Route: 065
  269. AGGRENOX [Interacting]
     Active Substance: ASPIRIN\DIPYRIDAMOLE
     Indication: Arthritis
     Dosage: 2 DOSAGE FORM, QD (1 EVERY 1 DAY)
     Route: 065
  270. AGGRENOX [Interacting]
     Active Substance: ASPIRIN\DIPYRIDAMOLE
     Dosage: 2 DOSAGE FORM, QW (1 EVERY 1 WEEKS)
     Route: 065
  271. AGGRENOX [Interacting]
     Active Substance: ASPIRIN\DIPYRIDAMOLE
     Dosage: 1 DOSAGE FORM, QD (2 EVERY 1 DAYS)
     Route: 065
  272. AGGRENOX [Interacting]
     Active Substance: ASPIRIN\DIPYRIDAMOLE
     Dosage: 1 DOSAGE FORM
     Route: 065
  273. AGGRENOX [Interacting]
     Active Substance: ASPIRIN\DIPYRIDAMOLE
     Dosage: UNK
     Route: 065
  274. AGGRENOX [Interacting]
     Active Substance: ASPIRIN\DIPYRIDAMOLE
     Dosage: 50 MILLIGRAM
     Route: 065
  275. AGGRENOX [Interacting]
     Active Substance: ASPIRIN\DIPYRIDAMOLE
     Dosage: 75 MILLIGRAM, QD (1 EVERY 1 DAYS)
     Route: 065
  276. AGGRENOX [Interacting]
     Active Substance: ASPIRIN\DIPYRIDAMOLE
     Dosage: 50 MILLIGRAM, QD (1 EVERY 1 DAYS)
     Route: 065
  277. AGGRENOX [Interacting]
     Active Substance: ASPIRIN\DIPYRIDAMOLE
     Dosage: 4 DOSAGE FORM, QD (1 EVERY 1 DAY)
     Route: 065
  278. AGGRENOX [Interacting]
     Active Substance: ASPIRIN\DIPYRIDAMOLE
     Dosage: 2 DOSAGE FORM
     Route: 065
  279. DILTIAZEM HYDROCHLORIDE [Interacting]
     Active Substance: DILTIAZEM HYDROCHLORIDE
     Indication: Hypertension
     Dosage: UNK
     Route: 065
  280. DILTIAZEM HYDROCHLORIDE [Interacting]
     Active Substance: DILTIAZEM HYDROCHLORIDE
     Indication: Coronary artery disease
     Dosage: 360 MILLIGRAM, QD (1 EVERY 1 DAY)
     Route: 065
  281. DILTIAZEM HYDROCHLORIDE [Interacting]
     Active Substance: DILTIAZEM HYDROCHLORIDE
     Indication: Chest pain
     Dosage: 500 MILLIGRAM, QD (1 EVERY 1 DAY)
     Route: 065
  282. DILTIAZEM HYDROCHLORIDE [Interacting]
     Active Substance: DILTIAZEM HYDROCHLORIDE
     Indication: Angina pectoris
  283. GALANTAMINE [Interacting]
     Active Substance: GALANTAMINE
     Indication: Dementia
     Dosage: 16 MILLIGRAM, QD (1 EVERY 1 DAY)
     Route: 065
  284. GALANTAMINE [Interacting]
     Active Substance: GALANTAMINE
     Dosage: UNK
     Route: 065
  285. GALANTAMINE [Interacting]
     Active Substance: GALANTAMINE
     Dosage: 18 MILLIGRAM
     Route: 065
  286. GALANTAMINE [Interacting]
     Active Substance: GALANTAMINE
     Dosage: 18 MILLIGRAM, QD (1 EVERY 1 DAY)
     Route: 065
  287. GALANTAMINE [Interacting]
     Active Substance: GALANTAMINE
     Dosage: 16 MILLIGRAM
     Route: 065
  288. LEVALBUTEROL [Interacting]
     Active Substance: LEVALBUTEROL
     Indication: Product used for unknown indication
     Dosage: UNK
     Route: 065
  289. OMEPRAZOLE [Interacting]
     Active Substance: OMEPRAZOLE
     Indication: Duodenal ulcer
     Dosage: 20 MILLIGRAM, QD (1 EVERY 1 DAYS)
     Route: 048
  290. OMEPRAZOLE [Interacting]
     Active Substance: OMEPRAZOLE
     Indication: Small intestine carcinoma
     Dosage: 20 MILLIGRAM, QD (1 EVERY 12 HOURS) (1 EVERY 1 DAYS)
     Route: 048
  291. OMEPRAZOLE [Interacting]
     Active Substance: OMEPRAZOLE
     Indication: Hypertension
     Dosage: 20 MILLIGRAM
     Route: 065
  292. OMEPRAZOLE [Interacting]
     Active Substance: OMEPRAZOLE
     Indication: Coronary artery disease
     Dosage: UNK
     Route: 065
  293. OMEPRAZOLE [Interacting]
     Active Substance: OMEPRAZOLE
     Indication: Chest pain
     Dosage: UNK
     Route: 048
  294. OMEPRAZOLE [Interacting]
     Active Substance: OMEPRAZOLE
     Indication: Angina pectoris
  295. ACETAMINOPHEN\CODEINE PHOSPHATE [Interacting]
     Active Substance: ACETAMINOPHEN\CODEINE PHOSPHATE
     Indication: Pain
     Dosage: UNK
     Route: 065
  296. PERSANTINE [Interacting]
     Active Substance: DIPYRIDAMOLE
     Indication: Cerebrovascular accident
     Dosage: 1 DOSAGE FORM
     Route: 065
  297. PERSANTINE [Interacting]
     Active Substance: DIPYRIDAMOLE
     Dosage: 2 DOSAGE FORM, QD (1 EVERY 1 DAYS)
     Route: 065
  298. PERSANTINE [Interacting]
     Active Substance: DIPYRIDAMOLE
     Dosage: UNK
     Route: 065
  299. PERSANTINE [Interacting]
     Active Substance: DIPYRIDAMOLE
     Dosage: 1 DOSAGE FORM (1 EVERY 12 HOURS)
     Route: 065
  300. SPIRIVA [Interacting]
     Active Substance: TIOTROPIUM BROMIDE MONOHYDRATE
     Indication: Constipation
     Dosage: UNK
     Route: 065
  301. SPIRIVA [Interacting]
     Active Substance: TIOTROPIUM BROMIDE MONOHYDRATE
     Indication: Chronic obstructive pulmonary disease
     Dosage: 1 DOSAGE FORM, QD (1 EVERY 1 DAYS)
     Route: 065
  302. SPIRIVA [Interacting]
     Active Substance: TIOTROPIUM BROMIDE MONOHYDRATE
     Indication: Asthma
     Dosage: 18 MICROGRAM, QD (1 EVERY 1 DAYS)
     Route: 065
  303. SPIRIVA [Interacting]
     Active Substance: TIOTROPIUM BROMIDE MONOHYDRATE
     Dosage: UNK
     Route: 048
  304. SPIRIVA [Interacting]
     Active Substance: TIOTROPIUM BROMIDE MONOHYDRATE
     Dosage: 18 MICROGRAM
     Route: 065
  305. SPIRIVA [Interacting]
     Active Substance: TIOTROPIUM BROMIDE MONOHYDRATE
     Dosage: UNK, QD (1 EVERY 1 DAYS)
     Route: 065
  306. TIOTROPIUM BROMIDE MONOHYDRATE [Interacting]
     Active Substance: TIOTROPIUM BROMIDE MONOHYDRATE
     Indication: Constipation
     Dosage: UNK
     Route: 048
  307. TIOTROPIUM BROMIDE MONOHYDRATE [Interacting]
     Active Substance: TIOTROPIUM BROMIDE MONOHYDRATE
     Indication: Chronic obstructive pulmonary disease
     Dosage: UNK
     Route: 065
  308. TIOTROPIUM BROMIDE MONOHYDRATE [Interacting]
     Active Substance: TIOTROPIUM BROMIDE MONOHYDRATE
     Indication: Asthma
     Dosage: 18 MILLIGRAM, QD (1 EVERY 1 DAYS)
     Route: 055
  309. TIOTROPIUM BROMIDE MONOHYDRATE [Interacting]
     Active Substance: TIOTROPIUM BROMIDE MONOHYDRATE
     Dosage: UNK UNK, QD (1 EVERY 1 DAYS)
     Route: 055
  310. CRANBERRY [Interacting]
     Active Substance: CRANBERRY
     Indication: Bladder disorder
     Dosage: 500 MILLIGRAM (3 EVERY 1 DAYS)
     Route: 065
  311. CRANBERRY [Interacting]
     Active Substance: CRANBERRY
     Dosage: 1500 MILLIGRAM (3 EVERY 1 DAYS)
     Route: 065
  312. CRANBERRY [Interacting]
     Active Substance: CRANBERRY
     Dosage: UNK
     Route: 065
  313. CRANBERRY [Interacting]
     Active Substance: CRANBERRY
     Dosage: 1500 MILLIGRAM (1 EVERY 1 DAYS)
     Route: 065
  314. ACETAMINOPHEN\CAFFEINE [Interacting]
     Active Substance: ACETAMINOPHEN\CAFFEINE
     Indication: Radioactive iodine therapy
     Dosage: 600 MILLIGRAM, QD (1 EVERY 1 DAYS)
     Route: 065
  315. ACETAMINOPHEN\CAFFEINE [Interacting]
     Active Substance: ACETAMINOPHEN\CAFFEINE
     Indication: Pain
     Dosage: UNK
     Route: 065
  316. ACETAMINOPHEN\CAFFEINE [Interacting]
     Active Substance: ACETAMINOPHEN\CAFFEINE
     Indication: Hypertension
     Dosage: 600 MILLIGRAM
     Route: 065
  317. ACETAMINOPHEN\CAFFEINE [Interacting]
     Active Substance: ACETAMINOPHEN\CAFFEINE
     Indication: Coronary artery disease
     Dosage: 60 MILLIGRAM, QD (1 EVERY 1 DAYS)
     Route: 065
  318. ACETAMINOPHEN\CAFFEINE [Interacting]
     Active Substance: ACETAMINOPHEN\CAFFEINE
     Indication: Chronic obstructive pulmonary disease
     Dosage: 60 MILLIGRAM
     Route: 065
  319. ACETAMINOPHEN\CAFFEINE [Interacting]
     Active Substance: ACETAMINOPHEN\CAFFEINE
     Indication: Chest pain
     Dosage: 650 MILLIGRAM
     Route: 065
  320. ACETAMINOPHEN\CAFFEINE [Interacting]
     Active Substance: ACETAMINOPHEN\CAFFEINE
     Indication: Cerebrovascular accident
     Dosage: 650 MILLIGRAM, QD (1 EVERY 1 DAY)
     Route: 065
  321. ACETAMINOPHEN\CAFFEINE [Interacting]
     Active Substance: ACETAMINOPHEN\CAFFEINE
     Indication: Angina pectoris
     Dosage: 50 MILLIGRAM, QD
     Route: 065
  322. ACETAMINOPHEN\CAFFEINE\DIHYDROCODEINE BITARTRATE [Interacting]
     Active Substance: ACETAMINOPHEN\CAFFEINE\DIHYDROCODEINE BITARTRATE
     Indication: Pain
     Dosage: 650 MILLIGRAM, QD (1 EVERY 1 DAYS)
     Route: 065
  323. MAGNESIUM ALUMINUM SILICATE [Interacting]
     Active Substance: MAGNESIUM ALUMINUM SILICATE
     Indication: Constipation
     Dosage: 620 MILLIGRAM (1 EVERY 12 HOURS)
     Route: 065
  324. AMBROXOL HYDROCHLORIDE\CLENBUTEROL [Interacting]
     Active Substance: AMBROXOL HYDROCHLORIDE\CLENBUTEROL
     Indication: Product used for unknown indication
     Dosage: UNK
     Route: 065
  325. AMITRIPTYLINE HYDROCHLORIDE\DIAZEPAM [Interacting]
     Active Substance: AMITRIPTYLINE HYDROCHLORIDE\DIAZEPAM
     Indication: Insomnia
     Dosage: 75 MILLIGRAM, QD (1 EVERY 1 DAYS)
     Route: 065
  326. AMITRIPTYLINE HYDROCHLORIDE\DIAZEPAM [Interacting]
     Active Substance: AMITRIPTYLINE HYDROCHLORIDE\DIAZEPAM
     Dosage: UNK
     Route: 065
  327. AMITRIPTYLINE HYDROCHLORIDE\DIAZEPAM [Interacting]
     Active Substance: AMITRIPTYLINE HYDROCHLORIDE\DIAZEPAM
     Dosage: UNK UNK, QD (1 EVERY 1 DAYS)
     Route: 065
  328. AMITRIPTYLINE PAMOATE\PERPHENAZINE [Interacting]
     Active Substance: AMITRIPTYLINE PAMOATE\PERPHENAZINE
     Indication: Insomnia
     Dosage: UNK, QD (1 EVERY 1 DAYS)
     Route: 065
  329. AMLODIPINE\TELMISARTAN [Interacting]
     Active Substance: AMLODIPINE\TELMISARTAN
     Indication: Hypertension
     Dosage: 5 MILLIGRAM, QD (1 EVERY 1 DAYS)
     Route: 065
  330. AMLODIPINE\TELMISARTAN [Interacting]
     Active Substance: AMLODIPINE\TELMISARTAN
     Indication: Coronary artery disease
     Dosage: UNK
     Route: 065
  331. AMLODIPINE\TELMISARTAN [Interacting]
     Active Substance: AMLODIPINE\TELMISARTAN
     Indication: Constipation
  332. AMLODIPINE\TELMISARTAN [Interacting]
     Active Substance: AMLODIPINE\TELMISARTAN
     Indication: Angina pectoris
  333. AMLODIPINE\TELMISARTAN [Interacting]
     Active Substance: AMLODIPINE\TELMISARTAN
     Indication: Chest pain
  334. AMLODIPINE MESYLATE [Interacting]
     Active Substance: AMLODIPINE MESYLATE
     Indication: Hypertension
     Dosage: 5 MILLIGRAM, QD (1 EVERY 1 DAYS)
     Route: 065
  335. AMLODIPINE MESYLATE [Interacting]
     Active Substance: AMLODIPINE MESYLATE
     Indication: Coronary artery disease
     Dosage: UNK
     Route: 065
  336. AMLODIPINE MESYLATE [Interacting]
     Active Substance: AMLODIPINE MESYLATE
     Indication: Chest pain
  337. AMLODIPINE MESYLATE [Interacting]
     Active Substance: AMLODIPINE MESYLATE
     Indication: Angina pectoris
  338. AMITRIPTYLINE [Interacting]
     Active Substance: AMITRIPTYLINE
     Indication: Insomnia
     Dosage: 50 MILLIGRAM, QD (1 EVERY 1 DAYS)
     Route: 065
  339. AMITRIPTYLINE [Interacting]
     Active Substance: AMITRIPTYLINE
     Dosage: 75 MILLIGRAM, QD (1 EVERY 1 DAYS)
     Route: 065
  340. AMITRIPTYLINE [Interacting]
     Active Substance: AMITRIPTYLINE
     Dosage: 75 MILLIGRAM
     Route: 065
  341. AMITRIPTYLINE [Interacting]
     Active Substance: AMITRIPTYLINE
     Dosage: UNK
     Route: 065
  342. AMITRIPTYLINE [Interacting]
     Active Substance: AMITRIPTYLINE
     Dosage: 25 MILLIGRAM, QD (1 EVERY 1 DAYS)
     Route: 065
  343. CARBAMAZEPINE [Interacting]
     Active Substance: CARBAMAZEPINE
     Indication: Seizure prophylaxis
     Dosage: 200 MILLIGRAM, BID (2 EVERY 1 DAYS)
     Route: 065
  344. CARBAMAZEPINE [Interacting]
     Active Substance: CARBAMAZEPINE
     Indication: Prophylaxis
     Dosage: UNK
     Route: 065
  345. CARBAMAZEPINE [Interacting]
     Active Substance: CARBAMAZEPINE
     Indication: Fibromyalgia
     Dosage: 400 MILLIGRAM, QD (1 EVERY 1 DAYS)
     Route: 065
  346. CARBAMAZEPINE [Interacting]
     Active Substance: CARBAMAZEPINE
     Dosage: 100 MILLIGRAM
     Route: 065
  347. CYCLOBENZAPRINE [Interacting]
     Active Substance: CYCLOBENZAPRINE
     Indication: Seizure prophylaxis
     Dosage: 5 MILLIGRAM
     Route: 065
  348. CYCLOBENZAPRINE [Interacting]
     Active Substance: CYCLOBENZAPRINE
     Indication: Fibromyalgia
     Dosage: 2 MILLIGRAM
     Route: 065
  349. CYCLOBENZAPRINE [Interacting]
     Active Substance: CYCLOBENZAPRINE
     Indication: Pain
     Dosage: UNK
     Route: 065
  350. CYCLOBENZAPRINE [Interacting]
     Active Substance: CYCLOBENZAPRINE
     Dosage: 100 MILLIGRAM
     Route: 065
  351. CYCLOBENZAPRINE [Interacting]
     Active Substance: CYCLOBENZAPRINE
     Dosage: 15 MILLIGRAM (1 EVERY 8 HOURS)
     Route: 065
  352. CYCLOBENZAPRINE [Interacting]
     Active Substance: CYCLOBENZAPRINE
     Dosage: 5 MILLIGRAM, (3 EVERY 1 DAYS)
     Route: 065
  353. CYCLOBENZAPRINE [Interacting]
     Active Substance: CYCLOBENZAPRINE
     Dosage: 5 MILLIGRAM, QD (1 EVERY 1 DAYS)
     Route: 065
  354. OXAZEPAM [Interacting]
     Active Substance: OXAZEPAM
     Indication: Insomnia
     Dosage: UNK, QD (1 EVERY 1 DAYS)
     Route: 065
  355. OXAZEPAM [Interacting]
     Active Substance: OXAZEPAM
     Indication: Hypertension
     Dosage: 15 MILLIGRAM, QD ( 1 EVERY 1 DAYS)
     Route: 065
  356. OXAZEPAM [Interacting]
     Active Substance: OXAZEPAM
     Indication: Coronary artery disease
  357. ASPIRIN [Interacting]
     Active Substance: ASPIRIN
     Indication: Hypertension
     Dosage: UNK
     Route: 065
  358. ASPIRIN [Interacting]
     Active Substance: ASPIRIN
     Indication: Coronary artery disease
  359. ASPIRIN [Interacting]
     Active Substance: ASPIRIN
     Indication: Angina pectoris
  360. CAFFEINE [Interacting]
     Active Substance: CAFFEINE
     Indication: Product used for unknown indication
     Dosage: UNK
     Route: 065
  361. CHONDROITIN SULFATE (BOVINE)\GLUCOSAMINE SULFATE [Interacting]
     Active Substance: CHONDROITIN SULFATE (BOVINE)\GLUCOSAMINE SULFATE
     Indication: Product used for unknown indication
     Dosage: UNK
     Route: 065
  362. CHONDROITIN SULFATE (BOVINE)\GLUCOSAMINE SULFATE [Interacting]
     Active Substance: CHONDROITIN SULFATE (BOVINE)\GLUCOSAMINE SULFATE
     Indication: Pain
     Dosage: UNK
     Route: 065
  363. CHONDROITIN SULFATE (BOVINE)\GLUCOSAMINE SULFATE [Interacting]
     Active Substance: CHONDROITIN SULFATE (BOVINE)\GLUCOSAMINE SULFATE
     Indication: Arthritis
  364. ANHYDROUS CITRIC ACID\MAGNESIUM OXIDE\SODIUM PICOSULFATE [Interacting]
     Active Substance: ANHYDROUS CITRIC ACID\MAGNESIUM OXIDE\SODIUM PICOSULFATE
     Indication: Constipation
     Dosage: 2 DOSAGE FORM, QD (1 EVERY 1 DAYS)
     Route: 065
  365. CYCLOBENZAPRINE [Interacting]
     Active Substance: CYCLOBENZAPRINE
     Indication: Pain
     Dosage: UNK
     Route: 065
  366. CYCLOBENZAPRINE [Interacting]
     Active Substance: CYCLOBENZAPRINE
     Indication: Fibromyalgia
     Dosage: 500 MILLIGRAM (1 EVERY 8 HOURS)
     Route: 065
  367. CYCLOBENZAPRINE [Interacting]
     Active Substance: CYCLOBENZAPRINE
     Indication: Seizure prophylaxis
     Dosage: 5 MILLIGRAM, BID (2 EVERY 1 DAYS)
     Route: 065
  368. CYCLOBENZAPRINE [Interacting]
     Active Substance: CYCLOBENZAPRINE
     Indication: Seizure
     Dosage: 200 MILLIGRAM (1 EVERY 12 HOURS)
     Route: 065
  369. CYCLOBENZAPRINE [Interacting]
     Active Substance: CYCLOBENZAPRINE
     Dosage: 2 MILLIGRAM, QD (1 EVERY 1 DAYS)
     Route: 065
  370. CYCLOBENZAPRINE [Interacting]
     Active Substance: CYCLOBENZAPRINE
     Dosage: 1.87 MILLIGRAM
     Route: 065
  371. CYCLOBENZAPRINE [Interacting]
     Active Substance: CYCLOBENZAPRINE
     Dosage: 15 MILLIGRAM, TID (3 EVERY 1 DAYS)
     Route: 065
  372. CYCLOBENZAPRINE [Interacting]
     Active Substance: CYCLOBENZAPRINE
     Dosage: 100 MILLIGRAM (1 EVERY 12 HOURS)
     Route: 065
  373. CYCLOBENZAPRINE [Interacting]
     Active Substance: CYCLOBENZAPRINE
     Dosage: 5 MILLIGRAM (1 EVERY 8 HOURS)
     Route: 065
  374. CYCLOBENZAPRINE [Interacting]
     Active Substance: CYCLOBENZAPRINE
     Dosage: 45 MILLIGRAM, QD (1 EVERY 1 DAYS)
     Route: 065
  375. CYCLOBENZAPRINE [Interacting]
     Active Substance: CYCLOBENZAPRINE
     Dosage: 0.63 MILLIGRAM
     Route: 065
  376. CYCLOBENZAPRINE [Interacting]
     Active Substance: CYCLOBENZAPRINE
     Dosage: 0.25 MILLIGRAM, QD (1 EVERY 1 DAYS)
     Route: 065
  377. CYCLOBENZAPRINE [Interacting]
     Active Substance: CYCLOBENZAPRINE
     Dosage: 0.33 MILLIGRAM, QD (1 EVERY 1 DAYS)
     Route: 065
  378. DIAZEPAM [Interacting]
     Active Substance: DIAZEPAM
     Indication: Insomnia
     Dosage: 360 MILLIGRAM, QD (1 EVERY 1 DAY)
     Route: 065
  379. DIAZEPAM [Interacting]
     Active Substance: DIAZEPAM
     Indication: Coronary artery disease
     Dosage: UNK
     Route: 065
  380. DIAZEPAM [Interacting]
     Active Substance: DIAZEPAM
     Indication: Chest pain
     Dosage: 15 MILLIGRAM, QD ( 1 EVERY 1 DAYS)
     Route: 065
  381. DIAZEPAM [Interacting]
     Active Substance: DIAZEPAM
     Indication: Angina unstable
     Dosage: 360 MILLIGRAM, QD ( 1 EVERY 1 DAYS)
     Route: 065
  382. DIAZEPAM [Interacting]
     Active Substance: DIAZEPAM
     Indication: Angina pectoris
     Dosage: 0.4 MILLIGRAM
     Route: 065
  383. DIAZEPAM [Interacting]
     Active Substance: DIAZEPAM
     Dosage: 75 MILLIGRAM
     Route: 065
  384. DIAZEPAM [Interacting]
     Active Substance: DIAZEPAM
     Dosage: 500 MILLIGRAM, QD (1 EVERY 1 DAY)
     Route: 065
  385. DIAZEPAM [Interacting]
     Active Substance: DIAZEPAM
     Dosage: 115 MILLIGRAM, QD (1 EVERY 1 DAY)
     Route: 065
  386. DIAZEPAM [Interacting]
     Active Substance: DIAZEPAM
     Dosage: 300 MILLIGRAM, QD (1 EVERY 1 DAY)
     Route: 065
  387. DIAZEPAM [Interacting]
     Active Substance: DIAZEPAM
     Indication: Insomnia
     Dosage: 36 MILLIGRAM, QD (ROA: INTRAVENOUS)
     Route: 065
  388. DIAZEPAM [Interacting]
     Active Substance: DIAZEPAM
     Indication: Coronary artery disease
  389. DIAZEPAM [Interacting]
     Active Substance: DIAZEPAM
     Indication: Chest pain
  390. DIAZEPAM [Interacting]
     Active Substance: DIAZEPAM
     Indication: Angina unstable
  391. DIAZEPAM [Interacting]
     Active Substance: DIAZEPAM
     Indication: Angina pectoris
  392. DOCUSATE SODIUM [Interacting]
     Active Substance: DOCUSATE SODIUM
     Indication: Constipation
     Dosage: UNK
     Route: 065
  393. DOCUSATE SODIUM\PHENOLPHTHALEIN [Interacting]
     Active Substance: DOCUSATE SODIUM\PHENOLPHTHALEIN
     Indication: Pain
     Dosage: UNK
     Route: 065
  394. DROTAVERINE [Interacting]
     Active Substance: DROTAVERINE
     Indication: Product used for unknown indication
     Dosage: UNK
     Route: 065
  395. DULCOLAX (BISACODYL) [Interacting]
     Active Substance: BISACODYL
     Indication: Constipation
     Dosage: 2 DOSAGE FORM, QD (1 EVERY 1 DAYS)
     Route: 065
  396. DULCOLAX (BISACODYL) [Interacting]
     Active Substance: BISACODYL
     Dosage: 2 DOSAGE FORM
     Route: 065
  397. DULCOLAX (BISACODYL) [Interacting]
     Active Substance: BISACODYL
     Dosage: UNK
     Route: 065
  398. DULCOLAX (BISACODYL) [Interacting]
     Active Substance: BISACODYL
     Dosage: 650 MILLIGRAM, QD (1 EVERY 1 DAY)
     Route: 065
  399. DULCOLAX (BISACODYL) [Interacting]
     Active Substance: BISACODYL
     Dosage: UNK
     Route: 048
  400. DULCOLAX (BISACODYL) [Interacting]
     Active Substance: BISACODYL
     Dosage: 1 DOSAGE FORM, QD (1 EVERY 1 DAYS)
     Route: 065
  401. ERGOCALCIFEROL [Interacting]
     Active Substance: ERGOCALCIFEROL
     Indication: Product used for unknown indication
     Dosage: UNK
     Route: 065
  402. FRUCTOSE\GLYCERIN\SODIUM CHLORIDE [Interacting]
     Active Substance: FRUCTOSE\GLYCERIN\SODIUM CHLORIDE
     Indication: Product used for unknown indication
     Dosage: UNK
     Route: 065
  403. NITROGLYCERIN [Interacting]
     Active Substance: NITROGLYCERIN
     Indication: Hypertension
     Dosage: 0.6 MILLIGRAM
     Route: 061
  404. NITROGLYCERIN [Interacting]
     Active Substance: NITROGLYCERIN
     Indication: Coronary artery disease
     Dosage: 0.4 MILLIGRAM
     Route: 065
  405. NITROGLYCERIN [Interacting]
     Active Substance: NITROGLYCERIN
     Indication: Chest pain
     Dosage: 1 DOSAGE FORM, QD (1 EVERY 1 DAYS)
     Route: 065
  406. NITROGLYCERIN [Interacting]
     Active Substance: NITROGLYCERIN
     Indication: Angina pectoris
     Dosage: 0.4 DOSAGE FORM, QD (1 EVERY 1 DAYS)
     Route: 065
  407. NITROGLYCERIN [Interacting]
     Active Substance: NITROGLYCERIN
     Dosage: 20 DOSAGE FORM, QD (1 EVERY 1 DAYS)
     Route: 065
  408. NITROGLYCERIN [Interacting]
     Active Substance: NITROGLYCERIN
     Dosage: 0.6 DOSAGE FORM, QD (1 EVERY 1 DAYS)
     Route: 065
  409. NITROGLYCERIN [Interacting]
     Active Substance: NITROGLYCERIN
     Dosage: 1 DOSAGE FORM, QD (1 EVERY 1 DAYS)
     Route: 065
  410. NITROGLYCERIN [Interacting]
     Active Substance: NITROGLYCERIN
     Dosage: 1 DOSAGE FORM
     Route: 065
  411. NITROGLYCERIN [Interacting]
     Active Substance: NITROGLYCERIN
     Dosage: 6 DOSAGE FORM, QD (1 EVERY 1 DAYS)
     Route: 065
  412. NITROGLYCERIN [Interacting]
     Active Substance: NITROGLYCERIN
     Dosage: 4 DOSAGE FORM, QD (1 EVERY 1 DAYS)
     Route: 065
  413. NITROGLYCERIN [Interacting]
     Active Substance: NITROGLYCERIN
     Dosage: UNK
     Route: 064
  414. NITROGLYCERIN [Interacting]
     Active Substance: NITROGLYCERIN
     Dosage: 0.4 MILLIGRAM, QD (1 EVERY 1 DAYS)
     Route: 065
  415. NITROGLYCERIN [Interacting]
     Active Substance: NITROGLYCERIN
     Dosage: 0.6 MILLIGRAM, QD (1 EVERY 1 DAYS)
     Route: 065
  416. HYDROCHLOROTHIAZIDE\QUINAPRIL HYDROCHLORIDE [Interacting]
     Active Substance: HYDROCHLOROTHIAZIDE\QUINAPRIL HYDROCHLORIDE
     Indication: Hypertension
     Dosage: 20 MILLIGRAM, QD (1 EVERY 1 DAYS)
     Route: 065
  417. HYDROCHLOROTHIAZIDE\QUINAPRIL HYDROCHLORIDE [Interacting]
     Active Substance: HYDROCHLOROTHIAZIDE\QUINAPRIL HYDROCHLORIDE
     Indication: Coronary artery dilatation
     Dosage: UNK
     Route: 065
  418. HYDROCHLOROTHIAZIDE\QUINAPRIL HYDROCHLORIDE [Interacting]
     Active Substance: HYDROCHLOROTHIAZIDE\QUINAPRIL HYDROCHLORIDE
     Indication: Chest pain
     Dosage: 40 MILLIGRAM, QD (1 EVERY 1 DAYS)
     Route: 065
  419. HYDROCHLOROTHIAZIDE\QUINAPRIL HYDROCHLORIDE [Interacting]
     Active Substance: HYDROCHLOROTHIAZIDE\QUINAPRIL HYDROCHLORIDE
     Indication: Angina pectoris
  420. LEVOFLOXACIN HEMIHYDRATE [Interacting]
     Active Substance: LEVOFLOXACIN
     Indication: Urinary tract infection
     Dosage: 200 MILLIGRAM, QD (1 EVERY 1 DAYS)
     Route: 065
  421. LEVOFLOXACIN HEMIHYDRATE [Interacting]
     Active Substance: LEVOFLOXACIN
     Dosage: 250 MILLIGRAM, QD (1 EVERY 1 DAYS)
     Route: 065
  422. LEVOFLOXACIN HEMIHYDRATE [Interacting]
     Active Substance: LEVOFLOXACIN
     Dosage: UNK, QD (1 EVERY 1 DAYS)
     Route: 065
  423. MORPHINE SULFATE [Interacting]
     Active Substance: MORPHINE SULFATE
     Indication: Pain
     Dosage: 10 MILLIGRAM, QD (1 EVERY 1 DAYS)
     Route: 030
  424. MORPHINE SULFATE [Interacting]
     Active Substance: MORPHINE SULFATE
     Indication: Fibromyalgia
     Dosage: 100 MILLIGRAM, QD (1 EVERY 1 DAYS)
     Route: 030
  425. MORPHINE SULFATE [Interacting]
     Active Substance: MORPHINE SULFATE
     Indication: Chest pain
     Dosage: 2 DOSAGE FORM, QD (1 EVERY 1 DAYS)
     Route: 030
  426. MORPHINE SULFATE [Interacting]
     Active Substance: MORPHINE SULFATE
     Dosage: 1 DOSAGE FORM, QD (1 EVERY 1 DAYS)
     Route: 030
  427. MORPHINE SULFATE [Interacting]
     Active Substance: MORPHINE SULFATE
     Dosage: UNK
     Route: 030
  428. OXCARBAZEPINE [Interacting]
     Active Substance: OXCARBAZEPINE
     Indication: Product used for unknown indication
     Dosage: UNK
     Route: 065
  429. PHENYLEPHRINE HYDROCHLORIDE [Interacting]
     Active Substance: PHENYLEPHRINE HYDROCHLORIDE
     Indication: Pain
     Dosage: UNK
     Route: 065
  430. PHENYLEPHRINE HYDROCHLORIDE [Interacting]
     Active Substance: PHENYLEPHRINE HYDROCHLORIDE
     Indication: Cerebrovascular accident
  431. DILTIAZEM HYDROCHLORIDE [Interacting]
     Active Substance: DILTIAZEM HYDROCHLORIDE
     Indication: Hypertension
     Dosage: 36 MILLIGRAM, QD (1 EVERY 1 DAYS)
     Route: 042
  432. DILTIAZEM HYDROCHLORIDE [Interacting]
     Active Substance: DILTIAZEM HYDROCHLORIDE
     Indication: Coronary artery disease
     Dosage: 360 MILLIGRAM, QD (1 EVERY 1 DAYS)
     Route: 065
  433. DILTIAZEM HYDROCHLORIDE [Interacting]
     Active Substance: DILTIAZEM HYDROCHLORIDE
     Indication: Chest pain
     Dosage: 360 MILLIGRAM
     Route: 065
  434. DILTIAZEM HYDROCHLORIDE [Interacting]
     Active Substance: DILTIAZEM HYDROCHLORIDE
     Indication: Angina pectoris
     Dosage: UNK
     Route: 042
  435. POLYSORBATE 20 [Interacting]
     Active Substance: POLYSORBATE 20
     Indication: Insomnia
     Dosage: UNK
     Route: 065
  436. POLYSORBATE 40 [Interacting]
     Active Substance: POLYSORBATE 40
     Indication: Insomnia
     Dosage: UNK
     Route: 065
  437. POLYSORBATE 80 [Interacting]
     Active Substance: POLYSORBATE 80
     Indication: Insomnia
     Dosage: UNK
     Route: 065
  438. POLYSORBATE 85 [Interacting]
     Active Substance: POLYSORBATE 85
     Indication: Insomnia
     Dosage: UNK
     Route: 065
  439. QUININE [Interacting]
     Active Substance: QUININE
     Indication: Pain
     Dosage: UNK
     Route: 065
  440. SALICYLAMIDE [Interacting]
     Active Substance: SALICYLAMIDE
     Indication: Pain
     Dosage: UNK
     Route: 065
  441. SENNOSIDES [Interacting]
     Active Substance: SENNOSIDES
     Indication: Pain
     Dosage: UNK
     Route: 065
  442. SODIUM PICOSULFATE [Interacting]
     Active Substance: SODIUM PICOSULFATE
     Indication: Constipation
     Dosage: 2 DOSAGE FORM, QD (1 EVERY 1 DAYS)
     Route: 065
  443. GLYCERIN [Interacting]
     Active Substance: GLYCERIN
     Indication: Product used for unknown indication
     Dosage: UNK
     Route: 065
  444. AMITRIPTYLINE HYDROCHLORIDE\PERPHENAZINE [Interacting]
     Active Substance: AMITRIPTYLINE HYDROCHLORIDE\PERPHENAZINE
     Indication: Insomnia
     Dosage: 75 MILLIGRAM, QD (1 EVERY 1 DAYS)
     Route: 065
  445. AMITRIPTYLINE HYDROCHLORIDE\PERPHENAZINE [Interacting]
     Active Substance: AMITRIPTYLINE HYDROCHLORIDE\PERPHENAZINE
     Indication: Hypertension
     Dosage: 50 MILLIGRAM, QD (1 EVERY 1 DAYS)
     Route: 065
  446. AMITRIPTYLINE HYDROCHLORIDE\PERPHENAZINE [Interacting]
     Active Substance: AMITRIPTYLINE HYDROCHLORIDE\PERPHENAZINE
     Indication: Fibromyalgia
  447. AMITRIPTYLINE HYDROCHLORIDE\PERPHENAZINE [Interacting]
     Active Substance: AMITRIPTYLINE HYDROCHLORIDE\PERPHENAZINE
     Indication: Duodenal ulcer
  448. AMITRIPTYLINE HYDROCHLORIDE\PERPHENAZINE [Interacting]
     Active Substance: AMITRIPTYLINE HYDROCHLORIDE\PERPHENAZINE
     Indication: Dementia
  449. AMITRIPTYLINE HYDROCHLORIDE\PERPHENAZINE [Interacting]
     Active Substance: AMITRIPTYLINE HYDROCHLORIDE\PERPHENAZINE
     Indication: Coronary artery disease
  450. AMITRIPTYLINE HYDROCHLORIDE\PERPHENAZINE [Interacting]
     Active Substance: AMITRIPTYLINE HYDROCHLORIDE\PERPHENAZINE
     Indication: Constipation
  451. AMITRIPTYLINE HYDROCHLORIDE\PERPHENAZINE [Interacting]
     Active Substance: AMITRIPTYLINE HYDROCHLORIDE\PERPHENAZINE
     Indication: Chest pain
  452. AMITRIPTYLINE HYDROCHLORIDE\PERPHENAZINE [Interacting]
     Active Substance: AMITRIPTYLINE HYDROCHLORIDE\PERPHENAZINE
     Indication: Arthritis
  453. AMITRIPTYLINE HYDROCHLORIDE\PERPHENAZINE [Interacting]
     Active Substance: AMITRIPTYLINE HYDROCHLORIDE\PERPHENAZINE
     Indication: Angina pectoris
  454. CARBAMAZEPINE [Interacting]
     Active Substance: CARBAMAZEPINE
     Indication: Seizure
     Dosage: 400 MILLIGRAM
     Route: 065
  455. CARBAMAZEPINE [Interacting]
     Active Substance: CARBAMAZEPINE
     Indication: Fibromyalgia
     Dosage: 200 MILLIGRAM
     Route: 065
  456. CARBAMAZEPINE [Interacting]
     Active Substance: CARBAMAZEPINE
     Indication: Seizure prophylaxis
     Dosage: 100 MILLIGRAM
     Route: 065
  457. CARBAMAZEPINE [Interacting]
     Active Substance: CARBAMAZEPINE
     Dosage: 500 MILLIGRAM, QD (1 EVERY 1 DAYS)
     Route: 065
  458. CARBAMAZEPINE [Interacting]
     Active Substance: CARBAMAZEPINE
     Dosage: 100 MILLIGRAM, QD (1 EVERY 1 DAYS)
     Route: 065
  459. CARBAMAZEPINE [Interacting]
     Active Substance: CARBAMAZEPINE
     Dosage: 200 MILLIGRAM, QD (1 EVERY 1 DAYS)
     Route: 065
  460. CARBAMAZEPINE [Interacting]
     Active Substance: CARBAMAZEPINE
     Dosage: 200 MILLIGRAM
     Route: 065
  461. DILTIAZEM HYDROCHLORIDE [Suspect]
     Active Substance: DILTIAZEM HYDROCHLORIDE
     Indication: Hypertension
     Dosage: 360 MILLIGRAM, QD (1 EVERY 1 DAYS, LIQUID INTRAVENOUS)
     Route: 065
  462. DILTIAZEM HYDROCHLORIDE [Suspect]
     Active Substance: DILTIAZEM HYDROCHLORIDE
     Indication: Coronary artery disease
     Dosage: 360 MILLIGRAM, QD (1 EVERY 1 DAYS)
     Route: 065
  463. DILTIAZEM HYDROCHLORIDE [Suspect]
     Active Substance: DILTIAZEM HYDROCHLORIDE
     Indication: Chest pain
     Dosage: 36 MILLIGRAM, QD (1 EVERY 1 DAYS)
     Route: 065
  464. DILTIAZEM HYDROCHLORIDE [Suspect]
     Active Substance: DILTIAZEM HYDROCHLORIDE
     Indication: Angina pectoris
     Dosage: 15 MILLIGRAM, QD (1 EVERY 1 DAYS)
     Route: 065
  465. DILTIAZEM HYDROCHLORIDE [Suspect]
     Active Substance: DILTIAZEM HYDROCHLORIDE
     Dosage: 40 MILLIGRAM, QD (1 EVERY 1 DAYS)
     Route: 065
  466. DIPYRIDAMOLE [Interacting]
     Active Substance: DIPYRIDAMOLE
     Indication: Cerebrovascular accident
     Dosage: UNK
     Route: 065
  467. DIPYRIDAMOLE [Interacting]
     Active Substance: DIPYRIDAMOLE
     Dosage: 2 DOSAGE FORM, QD (1 EVERY 1 DAYS)
     Route: 065
  468. FUROSEMIDE [Suspect]
     Active Substance: FUROSEMIDE
     Indication: Oedema
     Dosage: 4 MILLIGRAM, QD (1 EVERY 1 DAYS)
     Route: 065
  469. FUROSEMIDE [Suspect]
     Active Substance: FUROSEMIDE
     Indication: Coronary artery disease
  470. FUROSEMIDE [Suspect]
     Active Substance: FUROSEMIDE
     Indication: Chest pain
  471. GALANTAMINE HYDROBROMIDE [Interacting]
     Active Substance: GALANTAMINE HYDROBROMIDE
     Indication: Product used for unknown indication
     Dosage: UNK
     Route: 065
  472. GLUCOSAMINE [Interacting]
     Active Substance: GLUCOSAMINE
     Indication: Arthritis
     Dosage: 500 MILLIGRAM
     Route: 065
  473. GLUCOSAMINE [Interacting]
     Active Substance: GLUCOSAMINE
     Indication: Pain
     Dosage: UNK
     Route: 065
  474. LACTULOSE [Interacting]
     Active Substance: LACTULOSE
     Indication: Constipation
     Dosage: 15 MILLIGRAM, QD (1 EVERY 1 DAYS)
     Route: 065
  475. LEVOTHYROXINE SODIUM [Interacting]
     Active Substance: LEVOTHYROXINE SODIUM
     Indication: Thyroid disorder
     Dosage: 0.088 MILLIGRAM, QD (1 EVERY 1 DAYS)
     Route: 065
  476. LEVOTHYROXINE SODIUM [Interacting]
     Active Substance: LEVOTHYROXINE SODIUM
     Indication: Radioactive iodine therapy
     Dosage: 0.8 MILLIGRAM, QD (1 EVERY 1 DAYS)
     Route: 065
  477. OXAZEPAM [Suspect]
     Active Substance: OXAZEPAM
     Indication: Insomnia
     Dosage: 40 MILLIGRAM, QD (1 EVERY 1 DAYS)
     Route: 065
  478. OXAZEPAM [Suspect]
     Active Substance: OXAZEPAM
     Indication: Hypertension
  479. OXAZEPAM [Suspect]
     Active Substance: OXAZEPAM
     Indication: Coronary artery disease
  480. AMLODIPINE MESYLATE [Suspect]
     Active Substance: AMLODIPINE MESYLATE
     Indication: Hypertension
     Dosage: 5 MILLIGRAM, QD (1 EVERY 1 DAYS)
     Route: 065
  481. AMLODIPINE MESYLATE [Suspect]
     Active Substance: AMLODIPINE MESYLATE
     Indication: Coronary artery disease
  482. AMLODIPINE MESYLATE [Suspect]
     Active Substance: AMLODIPINE MESYLATE
     Indication: Angina pectoris
  483. QUINAPRIL HYDROCHLORIDE [Suspect]
     Active Substance: QUINAPRIL HYDROCHLORIDE
     Indication: Hypertension
     Dosage: 20 MILLIGRAM, QD (1 EVERY 1 DAYS)
     Route: 065
  484. QUINAPRIL HYDROCHLORIDE [Suspect]
     Active Substance: QUINAPRIL HYDROCHLORIDE
     Indication: Coronary artery disease
     Dosage: 40 MILLIGRAM, QD (1 EVERY 1 DAYS)
     Route: 065
  485. SPIRIVA [Interacting]
     Active Substance: TIOTROPIUM BROMIDE MONOHYDRATE
     Indication: Chronic obstructive pulmonary disease
     Dosage: 18 MICROGRAM, QD (1 EVERY 1 DAYS)
     Route: 065
  486. CRANBERRY [Interacting]
     Active Substance: CRANBERRY
     Indication: Chronic obstructive pulmonary disease
     Dosage: UNK
     Route: 065
  487. CRANBERRY [Interacting]
     Active Substance: CRANBERRY
     Indication: Bladder disorder
     Dosage: 500 MILLIGRAM, TID (3 EVERY 1 DAYS)
     Route: 065
  488. CRANBERRY [Interacting]
     Active Substance: CRANBERRY
     Dosage: 4500 MILLIGRAM, TID (3 EVERY 1 DAYS)
     Route: 065
  489. CRANBERRY [Interacting]
     Active Substance: CRANBERRY
     Dosage: 500 MILLIGRAM (1 EVERY 8 HOURS)
     Route: 065
  490. CRANBERRY [Interacting]
     Active Substance: CRANBERRY
     Dosage: 1500 MILLIGRAM, TID (3 EVERY 1 DAYS)
     Route: 065
  491. CRANBERRY [Interacting]
     Active Substance: CRANBERRY
     Dosage: 4500 MILLIGRAM
     Route: 065
  492. CRANBERRY [Interacting]
     Active Substance: CRANBERRY
     Dosage: 500 MILLIGRAM
     Route: 065
  493. ZINC [Interacting]
     Active Substance: ZINC
     Indication: Product used for unknown indication
     Dosage: UNK
     Route: 065
  494. MORPHINE SULFATE [Interacting]
     Active Substance: MORPHINE SULFATE
     Indication: Pain
     Dosage: 10 MILLIGRAM
     Route: 065
  495. MORPHINE SULFATE [Interacting]
     Active Substance: MORPHINE SULFATE
     Indication: Fibromyalgia
     Dosage: 10 MILLIGRAM, QD (1 EVERY 1 DAYS)
     Route: 065
  496. TIOTROPIUM BROMIDE MONOHYDRATE [Concomitant]
     Active Substance: TIOTROPIUM BROMIDE MONOHYDRATE
     Dosage: UNK
     Route: 065
  497. HERBALS\PLANTAGO OVATA LEAF [Concomitant]
     Active Substance: HERBALS\PLANTAGO OVATA LEAF
     Dosage: UNK
     Route: 065
  498. SODIUM BENZOATE [Interacting]
     Active Substance: SODIUM BENZOATE
     Dosage: UNK
     Route: 065
  499. POTASSIUM SORBATE [Concomitant]
     Active Substance: POTASSIUM SORBATE
     Dosage: UNK
     Route: 065
  500. PHOSPHORIC ACID [Concomitant]
     Active Substance: PHOSPHORIC ACID
     Dosage: UNK
     Route: 065
  501. CALCIUM POLYCARBOPHIL [Concomitant]
     Active Substance: CALCIUM POLYCARBOPHIL
     Dosage: UNK
     Route: 065
  502. CALCIUM ASCORBATE [Concomitant]
     Active Substance: CALCIUM ASCORBATE
     Dosage: UNK
     Route: 065
  503. ACETAMINOPHEN [Concomitant]
     Active Substance: ACETAMINOPHEN
     Indication: Pain
     Dosage: 650 MILLIGRAM
     Route: 065
  504. ACETAMINOPHEN [Concomitant]
     Active Substance: ACETAMINOPHEN
     Dosage: 600 MILLIGRAM, QD (1 EVERY 1 DAYS)
     Route: 065
  505. AGGRENOX [Concomitant]
     Active Substance: ASPIRIN\DIPYRIDAMOLE
     Indication: Cerebrovascular accident
     Dosage: 200 MILLIGRAM, BID (2 EVERY 1 DAYS)
     Route: 065
  506. AGGRENOX [Concomitant]
     Active Substance: ASPIRIN\DIPYRIDAMOLE
     Dosage: UNK
     Route: 065
  507. AGGRENOX [Concomitant]
     Active Substance: ASPIRIN\DIPYRIDAMOLE
     Indication: Cerebrovascular accident
     Dosage: 25 MILLIGRAM, BID (2 EVERY 1 DAYS)
     Route: 065
  508. AMITRIPTYLINE [Concomitant]
     Active Substance: AMITRIPTYLINE
     Indication: Insomnia
     Dosage: 25 MILLIGRAM
     Route: 065
  509. AMITRIPTYLINE [Concomitant]
     Active Substance: AMITRIPTYLINE
     Dosage: 50 MILLIGRAM
     Route: 065
  510. GLYCERIN\POTASSIUM [Concomitant]
     Active Substance: GLYCERIN\POTASSIUM
     Indication: Constipation
     Dosage: UNK
     Route: 065
  511. GALANTAMINE HYDROBROMIDE [Concomitant]
     Active Substance: GALANTAMINE HYDROBROMIDE
     Indication: Dementia
     Dosage: 16 MILLIGRAM, QD (1 EVERY 1 DAYS)
     Route: 065
  512. GLUCOSAMINE SULFATE [Concomitant]
     Active Substance: GLUCOSAMINE SULFATE
     Indication: Arthritis
     Dosage: 500 MILLIGRAM, BID (2 EVERY 1 DAYS)
     Route: 065
  513. LACTULOSE [Concomitant]
     Active Substance: LACTULOSE
     Indication: Constipation
     Dosage: 15 MILLILITER, QD (1 EVERY 1 DAYS)
     Route: 065
  514. LEVOFLOXACIN HEMIHYDRATE [Concomitant]
     Active Substance: LEVOFLOXACIN
     Indication: Urinary tract infection
     Dosage: 250 MILLIGRAM, QD (1 EVERY 1 DAYS)
     Route: 065
  515. LEVOTHYROXINE SODIUM [Concomitant]
     Active Substance: LEVOTHYROXINE SODIUM
     Indication: Thyroid disorder
     Dosage: 0.088 MILLIGRAM, QD (1 EVERY 1 DAYS)
     Route: 065
  516. MAGNESIUM HYDROXIDE [Concomitant]
     Active Substance: MAGNESIUM HYDROXIDE
     Indication: Constipation
     Dosage: 311 MILLIGRAM
     Route: 065
  517. OMEPRAZOLE [Concomitant]
     Active Substance: OMEPRAZOLE
     Indication: Duodenal ulcer
     Dosage: 20 MILLIGRAM, QD (1 EVERY 1 DAYS)
     Route: 065
  518. ROSUVASTATIN CALCIUM [Concomitant]
     Active Substance: ROSUVASTATIN CALCIUM
     Indication: Cerebrovascular accident
     Dosage: 20 MILLIGRAM, BID (2 EVERY 1 DAYS)
     Route: 065
  519. ALBUTEROL [Concomitant]
     Active Substance: ALBUTEROL
     Indication: Product used for unknown indication
     Dosage: 100 MICROGRAM
     Route: 065
  520. SPIRIVA [Concomitant]
     Active Substance: TIOTROPIUM BROMIDE MONOHYDRATE
     Indication: Chronic obstructive pulmonary disease
     Dosage: 18 MICROGRAM, QD (1 EVERY 1 DAYS)
     Route: 065
  521. ASPIRIN [Interacting]
     Active Substance: ASPIRIN
     Indication: Hypertension
     Dosage: UNK
     Route: 065
  522. ASPIRIN [Interacting]
     Active Substance: ASPIRIN
     Indication: Coronary artery disease
  523. ASPIRIN [Interacting]
     Active Substance: ASPIRIN
     Indication: Angina pectoris
  524. CRANBERRY [Concomitant]
     Active Substance: CRANBERRY
     Dosage: UNK
     Route: 065
  525. PSYLLIUM HUSK [Concomitant]
     Active Substance: PSYLLIUM HUSK
     Dosage: UNK
     Route: 065
  526. ZINC [Concomitant]
     Active Substance: ZINC
     Dosage: UNK
     Route: 065
  527. ASPIRIN [Concomitant]
     Active Substance: ASPIRIN
     Indication: Product used for unknown indication
     Dosage: UNK
     Route: 065
  528. ASPIRIN\SODIUM BICARBONATE [Concomitant]
     Active Substance: ASPIRIN\SODIUM BICARBONATE
     Indication: Product used for unknown indication
     Dosage: UNK
     Route: 065
  529. ASPIRIN\DIPYRIDAMOLE [Concomitant]
     Active Substance: ASPIRIN\DIPYRIDAMOLE
     Indication: Cerebrovascular accident
     Dosage: 2 DOSAGE FORM
     Route: 065
  530. ASPIRIN\DIPYRIDAMOLE [Concomitant]
     Active Substance: ASPIRIN\DIPYRIDAMOLE
     Dosage: 2 DOSAGE FORM, QD (1 EVERY 1 DAYS)
     Route: 065
  531. AMBROXOL\GUAIFENESIN\LEVALBUTEROL [Interacting]
     Active Substance: AMBROXOL\GUAIFENESIN\LEVALBUTEROL
     Indication: Product used for unknown indication
     Dosage: UNK
     Route: 065
  532. AMINOPHYLLINE [Interacting]
     Active Substance: AMINOPHYLLINE
     Indication: Coronary artery disease
     Dosage: UNK
     Route: 065
  533. ATROPINE [Interacting]
     Active Substance: ATROPINE
     Indication: Angina pectoris
     Dosage: 6 MILLIGRAM, QD (1 EVERY 1 DAY)
     Route: 061
  534. NITROGLYCERIN [Interacting]
     Active Substance: NITROGLYCERIN
     Indication: Chest pain
  535. ASCORBIC ACID\CRANBERRY [Concomitant]
     Active Substance: ASCORBIC ACID\CRANBERRY
     Indication: Product used for unknown indication
     Dosage: 500 MILLIGRAM, QD (1 EVERY 1 DAYS)
     Route: 065
  536. FRUCTOSE\GLYCERIN\SODIUM CHLORIDE [Concomitant]
     Active Substance: FRUCTOSE\GLYCERIN\SODIUM CHLORIDE
     Indication: Product used for unknown indication
     Dosage: UNK
     Route: 065
  537. GALANTAMINE HYDROBROMIDE [Suspect]
     Active Substance: GALANTAMINE HYDROBROMIDE
     Indication: Dementia
     Dosage: 16 MILLIGRAM, QD (1 EVERY 1 DAY)
     Route: 065
  538. OXAZEPAM [Interacting]
     Active Substance: OXAZEPAM
     Indication: Insomnia
     Dosage: 360 MILLIGRAM, QD (1 EVERY 1 DAY)
     Route: 065
  539. OXAZEPAM [Interacting]
     Active Substance: OXAZEPAM
     Indication: Hypertension
  540. OXAZEPAM [Interacting]
     Active Substance: OXAZEPAM
     Indication: Coronary artery disease
  541. PHENOLPHTHALEIN [Suspect]
     Active Substance: PHENOLPHTHALEIN
     Indication: Pain
     Dosage: UNK
     Route: 065
  542. PAPAVERINE [Interacting]
     Active Substance: PAPAVERINE
  543. PHENOBARBITAL [Interacting]
     Active Substance: PHENOBARBITAL

REACTIONS (23)
  - Cognitive disorder [Recovered/Resolved]
  - Drug interaction [Recovered/Resolved]
  - Fall [Recovered/Resolved]
  - Multiple drug therapy [Recovered/Resolved]
  - Sedation complication [Recovered/Resolved]
  - Orthostatic hypotension [Recovered/Resolved]
  - Constipation [Recovered/Resolved]
  - Balance disorder [Recovered/Resolved]
  - Sedation [Recovered/Resolved]
  - Blood calcium decreased [Recovered/Resolved]
  - Creatinine renal clearance decreased [Recovered/Resolved]
  - Depressed level of consciousness [Recovered/Resolved]
  - Hypotension [Recovered/Resolved]
  - Mobility decreased [Recovered/Resolved]
  - Pain [Recovered/Resolved]
  - Creatinine renal clearance increased [Recovered/Resolved]
  - Dyspnoea [Recovered/Resolved]
  - Renal function test abnormal [Recovered/Resolved]
  - Toxicity to various agents [Recovered/Resolved]
  - Drug abuse [Recovered/Resolved]
  - Off label use [Recovered/Resolved]
  - Product use in unapproved indication [Recovered/Resolved]
  - Overdose [Recovered/Resolved]
